FAERS Safety Report 20871103 (Version 12)
Quarter: 2025Q3

REPORT INFORMATION
  Report Type: Other
  Country: CA (occurrence: CA)
  Receive Date: 20220525
  Receipt Date: 20250902
  Transmission Date: 20251021
  Serious: Yes (Death, Life-Threatening, Hospitalization, Disabling, Other)
  Sender: ASPEN
  Company Number: CA-SAMIL-GLO2022CA002666

PATIENT

DRUGS (797)
  1. SULFAMETHOXAZOLE\TRIMETHOPRIM [Suspect]
     Active Substance: SULFAMETHOXAZOLE\TRIMETHOPRIM
     Indication: Product used for unknown indication
     Route: 065
  2. SULFAMETHOXAZOLE\TRIMETHOPRIM [Suspect]
     Active Substance: SULFAMETHOXAZOLE\TRIMETHOPRIM
     Route: 067
  3. SULFAMETHOXAZOLE\TRIMETHOPRIM [Suspect]
     Active Substance: SULFAMETHOXAZOLE\TRIMETHOPRIM
     Route: 065
  4. SULFAMETHOXAZOLE\TRIMETHOPRIM [Suspect]
     Active Substance: SULFAMETHOXAZOLE\TRIMETHOPRIM
     Route: 065
  5. SULFAMETHOXAZOLE\TRIMETHOPRIM [Suspect]
     Active Substance: SULFAMETHOXAZOLE\TRIMETHOPRIM
     Route: 065
  6. SULFAMETHOXAZOLE\TRIMETHOPRIM [Suspect]
     Active Substance: SULFAMETHOXAZOLE\TRIMETHOPRIM
     Route: 065
  7. DESOGESTREL [Suspect]
     Active Substance: DESOGESTREL
     Indication: Product used for unknown indication
     Route: 065
  8. ACETAMINOPHEN [Suspect]
     Active Substance: ACETAMINOPHEN
     Indication: Systemic lupus erythematosus
     Route: 065
  9. ACETAMINOPHEN [Suspect]
     Active Substance: ACETAMINOPHEN
     Indication: Rheumatoid arthritis
     Route: 065
  10. ACETAMINOPHEN [Suspect]
     Active Substance: ACETAMINOPHEN
     Indication: Pyrexia
     Route: 065
  11. ACETAMINOPHEN [Suspect]
     Active Substance: ACETAMINOPHEN
     Indication: Pain
     Route: 047
  12. ACETAMINOPHEN [Suspect]
     Active Substance: ACETAMINOPHEN
     Route: 058
  13. ACETAMINOPHEN [Suspect]
     Active Substance: ACETAMINOPHEN
     Route: 065
  14. ACETAMINOPHEN [Suspect]
     Active Substance: ACETAMINOPHEN
     Route: 048
  15. ACTEMRA [Suspect]
     Active Substance: TOCILIZUMAB
     Indication: Rheumatoid arthritis
     Route: 065
  16. ACTEMRA [Suspect]
     Active Substance: TOCILIZUMAB
     Route: 042
  17. ACTEMRA [Suspect]
     Active Substance: TOCILIZUMAB
     Route: 058
  18. ACTEMRA [Suspect]
     Active Substance: TOCILIZUMAB
     Dosage: 752 MG, 1 DOSE WEEKLY
     Route: 042
  19. ACTEMRA [Suspect]
     Active Substance: TOCILIZUMAB
     Route: 048
  20. ACTEMRA [Suspect]
     Active Substance: TOCILIZUMAB
     Route: 042
  21. ACTEMRA [Suspect]
     Active Substance: TOCILIZUMAB
     Route: 065
  22. ACTEMRA [Suspect]
     Active Substance: TOCILIZUMAB
     Route: 065
  23. ACTEMRA [Suspect]
     Active Substance: TOCILIZUMAB
     Route: 042
  24. ACTEMRA [Suspect]
     Active Substance: TOCILIZUMAB
     Route: 042
  25. ACTEMRA [Suspect]
     Active Substance: TOCILIZUMAB
     Route: 042
  26. ACTEMRA [Suspect]
     Active Substance: TOCILIZUMAB
     Route: 042
  27. ACTEMRA [Suspect]
     Active Substance: TOCILIZUMAB
     Route: 042
  28. ACTEMRA [Suspect]
     Active Substance: TOCILIZUMAB
     Route: 065
  29. ACTEMRA [Suspect]
     Active Substance: TOCILIZUMAB
     Route: 042
  30. ACTEMRA [Suspect]
     Active Substance: TOCILIZUMAB
     Route: 042
  31. ACTEMRA [Suspect]
     Active Substance: TOCILIZUMAB
     Dosage: 752.8 MG, 1 DOSE WEEKLY
     Route: 042
  32. ACTEMRA [Suspect]
     Active Substance: TOCILIZUMAB
     Dosage: 752.8 MG, 1 DOSE WEEKLY
     Route: 042
  33. ACTEMRA [Suspect]
     Active Substance: TOCILIZUMAB
     Indication: Rheumatoid arthritis
     Route: 042
  34. ACTEMRA [Suspect]
     Active Substance: TOCILIZUMAB
     Route: 042
  35. ACTEMRA [Suspect]
     Active Substance: TOCILIZUMAB
     Route: 058
  36. ACTEMRA [Suspect]
     Active Substance: TOCILIZUMAB
     Route: 042
  37. ACTEMRA [Suspect]
     Active Substance: TOCILIZUMAB
     Dosage: 728.8 MG, 1 DOSE MONTHLY
     Route: 042
  38. ACTEMRA [Suspect]
     Active Substance: TOCILIZUMAB
     Dosage: 728.8 MG, 1 DOSE MONTHLY
     Route: 042
  39. ACTEMRA [Suspect]
     Active Substance: TOCILIZUMAB
     Route: 048
  40. ACTEMRA [Suspect]
     Active Substance: TOCILIZUMAB
     Dosage: 752.8 MG, 1 DOSE MONTHLY
     Route: 042
  41. ACTEMRA [Suspect]
     Active Substance: TOCILIZUMAB
     Dosage: 752.8 MG, 1 DOSE 4 WEEKS
     Route: 042
  42. ACTEMRA [Suspect]
     Active Substance: TOCILIZUMAB
     Dosage: 728 MG, 1 DOSE MONTHLY
     Route: 042
  43. ACTEMRA [Suspect]
     Active Substance: TOCILIZUMAB
     Dosage: 728 MG, 1 DOSE 4 WEEKS
     Route: 042
  44. ACTEMRA [Suspect]
     Active Substance: TOCILIZUMAB
     Route: 065
  45. ACTEMRA [Suspect]
     Active Substance: TOCILIZUMAB
     Route: 042
  46. ACTEMRA [Suspect]
     Active Substance: TOCILIZUMAB
     Route: 042
  47. ACTEMRA [Suspect]
     Active Substance: TOCILIZUMAB
     Route: 065
  48. ACTEMRA [Suspect]
     Active Substance: TOCILIZUMAB
     Route: 065
  49. ACTEMRA [Suspect]
     Active Substance: TOCILIZUMAB
     Route: 042
  50. ADALIMUMAB [Suspect]
     Active Substance: ADALIMUMAB
     Indication: Rheumatoid arthritis
     Route: 058
  51. ADALIMUMAB [Suspect]
     Active Substance: ADALIMUMAB
     Indication: Psoriatic arthropathy
     Route: 048
  52. ADALIMUMAB [Suspect]
     Active Substance: ADALIMUMAB
     Route: 058
  53. ALFACALCIDOL [Suspect]
     Active Substance: ALFACALCIDOL
     Indication: Product used for unknown indication
     Route: 065
  54. ARAVA [Suspect]
     Active Substance: LEFLUNOMIDE
     Indication: Rheumatoid arthritis
     Route: 048
  55. ARAVA [Suspect]
     Active Substance: LEFLUNOMIDE
     Dosage: 20 MG, QD
     Route: 048
  56. ARAVA [Suspect]
     Active Substance: LEFLUNOMIDE
     Route: 065
  57. ARAVA [Suspect]
     Active Substance: LEFLUNOMIDE
     Route: 048
  58. ARAVA [Suspect]
     Active Substance: LEFLUNOMIDE
     Route: 065
  59. ARAVA [Suspect]
     Active Substance: LEFLUNOMIDE
     Route: 019
  60. ARAVA [Suspect]
     Active Substance: LEFLUNOMIDE
     Route: 019
  61. ARAVA [Suspect]
     Active Substance: LEFLUNOMIDE
     Route: 005
  62. CHLORHEXIDINE GLUCONATE\ISOPROPYL ALCOHOL [Suspect]
     Active Substance: CHLORHEXIDINE GLUCONATE\ISOPROPYL ALCOHOL
     Indication: Product used for unknown indication
     Route: 065
  63. CHLORHEXIDINE GLUCONATE\ISOPROPYL ALCOHOL [Suspect]
     Active Substance: CHLORHEXIDINE GLUCONATE\ISOPROPYL ALCOHOL
     Route: 002
  64. CHLORHEXIDINE GLUCONATE\ISOPROPYL ALCOHOL [Suspect]
     Active Substance: CHLORHEXIDINE GLUCONATE\ISOPROPYL ALCOHOL
     Route: 048
  65. CHLORHEXIDINE GLUCONATE\ISOPROPYL ALCOHOL [Suspect]
     Active Substance: CHLORHEXIDINE GLUCONATE\ISOPROPYL ALCOHOL
     Route: 061
  66. EMEND [Suspect]
     Active Substance: APREPITANT
     Indication: Product used for unknown indication
     Route: 065
  67. ALENDRONATE SODIUM [Suspect]
     Active Substance: ALENDRONATE SODIUM
     Indication: Rheumatoid arthritis
     Route: 048
  68. ALENDRONATE SODIUM [Suspect]
     Active Substance: ALENDRONATE SODIUM
     Route: 048
  69. ALENDRONATE SODIUM [Suspect]
     Active Substance: ALENDRONATE SODIUM
     Route: 048
  70. DICLOFENAC SODIUM [Suspect]
     Active Substance: DICLOFENAC SODIUM
     Indication: Product used for unknown indication
     Route: 065
  71. DICLOFENAC SODIUM [Suspect]
     Active Substance: DICLOFENAC SODIUM
     Route: 047
  72. PREDNISONE [Suspect]
     Active Substance: PREDNISONE
     Indication: Rheumatoid arthritis
     Route: 048
  73. PREDNISONE [Suspect]
     Active Substance: PREDNISONE
     Indication: Systemic lupus erythematosus
     Route: 065
  74. PREDNISONE [Suspect]
     Active Substance: PREDNISONE
     Indication: Synovitis
     Route: 048
  75. PREDNISONE [Suspect]
     Active Substance: PREDNISONE
     Indication: Psoriatic arthropathy
     Route: 065
  76. PREDNISONE [Suspect]
     Active Substance: PREDNISONE
     Indication: Pemphigus
     Route: 048
  77. PREDNISONE [Suspect]
     Active Substance: PREDNISONE
     Indication: Inflammation
     Route: 065
  78. PREDNISONE [Suspect]
     Active Substance: PREDNISONE
     Indication: Bursitis
     Route: 048
  79. PREDNISONE [Suspect]
     Active Substance: PREDNISONE
     Route: 048
  80. APREPITANT [Suspect]
     Active Substance: APREPITANT
     Indication: Product used for unknown indication
     Route: 042
  81. CALCIUM [Suspect]
     Active Substance: CALCIUM
     Indication: Product used for unknown indication
     Route: 065
  82. CALCIUM [Suspect]
     Active Substance: CALCIUM
     Route: 065
  83. CELEBREX [Suspect]
     Active Substance: CELECOXIB
     Indication: Rheumatoid arthritis
     Dosage: 1 DOSAGE FORM, QD
     Route: 048
  84. CELEBREX [Suspect]
     Active Substance: CELECOXIB
     Indication: Osteoarthritis
     Dosage: 2 DOSAGE FORM, 1 DOSE WEEKLY
     Route: 048
  85. CELEBREX [Suspect]
     Active Substance: CELECOXIB
     Indication: Inflammation
     Route: 048
  86. CELEBREX [Suspect]
     Active Substance: CELECOXIB
     Indication: Arthritis
     Route: 048
  87. CELEBREX [Suspect]
     Active Substance: CELECOXIB
     Route: 065
  88. CELEBREX [Suspect]
     Active Substance: CELECOXIB
     Route: 065
  89. CETIRIZINE HYDROCHLORIDE [Suspect]
     Active Substance: CETIRIZINE HYDROCHLORIDE
     Indication: Rheumatoid arthritis
     Route: 065
  90. CETIRIZINE HYDROCHLORIDE [Suspect]
     Active Substance: CETIRIZINE HYDROCHLORIDE
     Route: 065
  91. CETIRIZINE HYDROCHLORIDE [Suspect]
     Active Substance: CETIRIZINE HYDROCHLORIDE
     Route: 048
  92. CETIRIZINE HYDROCHLORIDE [Suspect]
     Active Substance: CETIRIZINE HYDROCHLORIDE
     Route: 048
  93. CETIRIZINE HYDROCHLORIDE [Suspect]
     Active Substance: CETIRIZINE HYDROCHLORIDE
     Route: 048
  94. CETIRIZINE HYDROCHLORIDE [Suspect]
     Active Substance: CETIRIZINE HYDROCHLORIDE
     Route: 065
  95. CETIRIZINE HYDROCHLORIDE [Suspect]
     Active Substance: CETIRIZINE HYDROCHLORIDE
     Route: 048
  96. CETIRIZINE HYDROCHLORIDE [Suspect]
     Active Substance: CETIRIZINE HYDROCHLORIDE
     Route: 048
  97. CETIRIZINE HYDROCHLORIDE [Suspect]
     Active Substance: CETIRIZINE HYDROCHLORIDE
     Route: 048
  98. CHLORAPREP [Suspect]
     Active Substance: CHLORHEXIDINE GLUCONATE\ISOPROPYL ALCOHOL
     Indication: Product used for unknown indication
     Route: 061
  99. CHLORAPREP [Suspect]
     Active Substance: CHLORHEXIDINE GLUCONATE\ISOPROPYL ALCOHOL
     Route: 048
  100. CHLORAPREP [Suspect]
     Active Substance: CHLORHEXIDINE GLUCONATE\ISOPROPYL ALCOHOL
     Route: 048
  101. CHLORAPREP [Suspect]
     Active Substance: CHLORHEXIDINE GLUCONATE\ISOPROPYL ALCOHOL
     Route: 065
  102. CHLORAPREP [Suspect]
     Active Substance: CHLORHEXIDINE GLUCONATE\ISOPROPYL ALCOHOL
     Route: 061
  103. CHLORAPREP [Suspect]
     Active Substance: CHLORHEXIDINE GLUCONATE\ISOPROPYL ALCOHOL
     Route: 065
  104. CHLORHEXIDINE [Suspect]
     Active Substance: CHLORHEXIDINE
     Indication: Product used for unknown indication
     Route: 061
  105. CHLORHEXIDINE [Suspect]
     Active Substance: CHLORHEXIDINE
     Indication: Rheumatoid arthritis
     Route: 048
  106. CHLORHEXIDINE [Suspect]
     Active Substance: CHLORHEXIDINE
     Route: 048
  107. CHLORHEXIDINE [Suspect]
     Active Substance: CHLORHEXIDINE
     Route: 002
  108. CHLORHEXIDINE GLUCONATE [Suspect]
     Active Substance: CHLORHEXIDINE GLUCONATE
     Indication: Product used for unknown indication
     Route: 002
  109. CHLORHEXIDINE GLUCONATE [Suspect]
     Active Substance: CHLORHEXIDINE GLUCONATE
     Route: 065
  110. CHLORHEXIDINE GLUCONATE [Suspect]
     Active Substance: CHLORHEXIDINE GLUCONATE
     Route: 048
  111. CHLORHEXIDINE GLUCONATE [Suspect]
     Active Substance: CHLORHEXIDINE GLUCONATE
     Route: 048
  112. CHLORHEXIDINE GLUCONATE [Suspect]
     Active Substance: CHLORHEXIDINE GLUCONATE
     Route: 061
  113. CHLORHEXIDINE GLUCONATE [Suspect]
     Active Substance: CHLORHEXIDINE GLUCONATE
     Route: 061
  114. CHLORHEXIDINE GLUCONATE [Suspect]
     Active Substance: CHLORHEXIDINE GLUCONATE
     Route: 061
  115. CHLORHEXIDINE GLUCONATE [Suspect]
     Active Substance: CHLORHEXIDINE GLUCONATE
     Route: 061
  116. CHLORHEXIDINE GLUCONATE [Suspect]
     Active Substance: CHLORHEXIDINE GLUCONATE
     Route: 065
  117. CHLORHEXIDINE GLUCONATE [Suspect]
     Active Substance: CHLORHEXIDINE GLUCONATE
     Route: 065
  118. CHLORHEXIDINE GLUCONATE [Suspect]
     Active Substance: CHLORHEXIDINE GLUCONATE
     Route: 065
  119. CHLORHEXIDINE GLUCONATE [Suspect]
     Active Substance: CHLORHEXIDINE GLUCONATE
     Route: 065
  120. CHLORHEXIDINE GLUCONATE [Suspect]
     Active Substance: CHLORHEXIDINE GLUCONATE
     Route: 065
  121. CHLORHEXIDINE GLUCONATE [Suspect]
     Active Substance: CHLORHEXIDINE GLUCONATE
     Route: 065
  122. CHLORHEXIDINE GLUCONATE [Suspect]
     Active Substance: CHLORHEXIDINE GLUCONATE
     Route: 065
  123. CHLORHEXIDINE GLUCONATE [Suspect]
     Active Substance: CHLORHEXIDINE GLUCONATE
     Route: 065
  124. CHLORHEXIDINE GLUCONATE [Suspect]
     Active Substance: CHLORHEXIDINE GLUCONATE
     Route: 065
  125. CHLORHEXIDINE GLUCONATE [Suspect]
     Active Substance: CHLORHEXIDINE GLUCONATE
     Route: 065
  126. CHLORHEXIDINE GLUCONATE [Suspect]
     Active Substance: CHLORHEXIDINE GLUCONATE
     Route: 065
  127. CHLORHEXIDINE GLUCONATE [Suspect]
     Active Substance: CHLORHEXIDINE GLUCONATE
     Route: 065
  128. CHLORHEXIDINE GLUCONATE [Suspect]
     Active Substance: CHLORHEXIDINE GLUCONATE
     Route: 065
  129. CHLORHEXIDINE GLUCONATE [Suspect]
     Active Substance: CHLORHEXIDINE GLUCONATE
     Route: 065
  130. CHLORHEXIDINE GLUCONATE [Suspect]
     Active Substance: CHLORHEXIDINE GLUCONATE
     Route: 065
  131. CHLORHEXIDINE GLUCONATE [Suspect]
     Active Substance: CHLORHEXIDINE GLUCONATE
     Route: 002
  132. CHLORHEXIDINE GLUCONATE [Suspect]
     Active Substance: CHLORHEXIDINE GLUCONATE
     Route: 002
  133. CHLORHEXIDINE GLUCONATE [Suspect]
     Active Substance: CHLORHEXIDINE GLUCONATE
     Route: 002
  134. CHLORHEXIDINE GLUCONATE [Suspect]
     Active Substance: CHLORHEXIDINE GLUCONATE
     Route: 002
  135. CHLORHEXIDINE GLUCONATE [Suspect]
     Active Substance: CHLORHEXIDINE GLUCONATE
     Route: 002
  136. CIMZIA [Suspect]
     Active Substance: CERTOLIZUMAB PEGOL
     Indication: Rheumatoid arthritis
     Route: 058
  137. CIMZIA [Suspect]
     Active Substance: CERTOLIZUMAB PEGOL
     Indication: Psoriatic arthropathy
     Dosage: 40 MILLIGRAM, QD
     Route: 058
  138. CIMZIA [Suspect]
     Active Substance: CERTOLIZUMAB PEGOL
     Indication: Psoriasis
     Route: 042
  139. CIMZIA [Suspect]
     Active Substance: CERTOLIZUMAB PEGOL
     Indication: Product used for unknown indication
     Route: 042
  140. CIMZIA [Suspect]
     Active Substance: CERTOLIZUMAB PEGOL
     Dosage: 1 DOSAGE FORM, QD
     Route: 058
  141. CIMZIA [Suspect]
     Active Substance: CERTOLIZUMAB PEGOL
     Route: 058
  142. CIMZIA [Suspect]
     Active Substance: CERTOLIZUMAB PEGOL
     Route: 058
  143. CIMZIA [Suspect]
     Active Substance: CERTOLIZUMAB PEGOL
     Route: 058
  144. CIMZIA [Suspect]
     Active Substance: CERTOLIZUMAB PEGOL
     Route: 058
  145. CIMZIA [Suspect]
     Active Substance: CERTOLIZUMAB PEGOL
     Route: 058
  146. CIMZIA [Suspect]
     Active Substance: CERTOLIZUMAB PEGOL
     Route: 058
  147. CIMZIA [Suspect]
     Active Substance: CERTOLIZUMAB PEGOL
     Route: 058
  148. CIMZIA [Suspect]
     Active Substance: CERTOLIZUMAB PEGOL
     Route: 005
  149. CIMZIA [Suspect]
     Active Substance: CERTOLIZUMAB PEGOL
     Route: 042
  150. CIMZIA [Suspect]
     Active Substance: CERTOLIZUMAB PEGOL
     Route: 065
  151. CIMZIA [Suspect]
     Active Substance: CERTOLIZUMAB PEGOL
     Route: 065
  152. CIMZIA [Suspect]
     Active Substance: CERTOLIZUMAB PEGOL
     Route: 065
  153. CIMZIA [Suspect]
     Active Substance: CERTOLIZUMAB PEGOL
     Route: 065
  154. CIMZIA [Suspect]
     Active Substance: CERTOLIZUMAB PEGOL
     Route: 065
  155. CORTISONE ACETATE [Suspect]
     Active Substance: CORTISONE ACETATE
     Indication: Rheumatoid arthritis
     Route: 061
  156. CORTISONE ACETATE [Suspect]
     Active Substance: CORTISONE ACETATE
     Route: 061
  157. CORTISONE ACETATE [Suspect]
     Active Substance: CORTISONE ACETATE
     Route: 065
  158. CORTISONE ACETATE [Suspect]
     Active Substance: CORTISONE ACETATE
     Route: 058
  159. CORTISONE ACETATE [Suspect]
     Active Substance: CORTISONE ACETATE
     Route: 058
  160. CORTISONE ACETATE [Suspect]
     Active Substance: CORTISONE ACETATE
     Route: 003
  161. CORTISONE ACETATE [Suspect]
     Active Substance: CORTISONE ACETATE
     Route: 048
  162. CORTISONE ACETATE [Suspect]
     Active Substance: CORTISONE ACETATE
     Route: 048
  163. CORTISONE ACETATE [Suspect]
     Active Substance: CORTISONE ACETATE
     Route: 065
  164. CORTISONE ACETATE [Suspect]
     Active Substance: CORTISONE ACETATE
     Route: 048
  165. CORTISONE ACETATE [Suspect]
     Active Substance: CORTISONE ACETATE
     Route: 048
  166. CORTISONE ACETATE [Suspect]
     Active Substance: CORTISONE ACETATE
     Route: 048
  167. CORTISONE ACETATE [Suspect]
     Active Substance: CORTISONE ACETATE
     Route: 048
  168. CORTISONE ACETATE [Suspect]
     Active Substance: CORTISONE ACETATE
     Route: 003
  169. CORTISONE ACETATE [Suspect]
     Active Substance: CORTISONE ACETATE
     Route: 058
  170. CORTISONE ACETATE [Suspect]
     Active Substance: CORTISONE ACETATE
     Route: 065
  171. CORTISONE ACETATE [Suspect]
     Active Substance: CORTISONE ACETATE
     Route: 048
  172. CORTISONE ACETATE [Suspect]
     Active Substance: CORTISONE ACETATE
     Route: 058
  173. CORTISONE ACETATE [Suspect]
     Active Substance: CORTISONE ACETATE
     Route: 003
  174. CORTISONE ACETATE [Suspect]
     Active Substance: CORTISONE ACETATE
     Route: 065
  175. CORTISONE ACETATE [Suspect]
     Active Substance: CORTISONE ACETATE
     Route: 003
  176. CORTISONE ACETATE [Suspect]
     Active Substance: CORTISONE ACETATE
     Route: 003
  177. CORTISONE ACETATE [Suspect]
     Active Substance: CORTISONE ACETATE
     Route: 048
  178. CORTISONE ACETATE [Suspect]
     Active Substance: CORTISONE ACETATE
     Route: 003
  179. CORTISONE ACETATE [Suspect]
     Active Substance: CORTISONE ACETATE
     Route: 058
  180. CORTISONE ACETATE [Suspect]
     Active Substance: CORTISONE ACETATE
     Route: 048
  181. CORTISONE ACETATE [Suspect]
     Active Substance: CORTISONE ACETATE
     Route: 048
  182. DESOXIMETASONE [Suspect]
     Active Substance: DESOXIMETASONE
     Indication: Rheumatoid arthritis
     Route: 058
  183. DESOXIMETASONE [Suspect]
     Active Substance: DESOXIMETASONE
     Route: 061
  184. DESOXIMETASONE [Suspect]
     Active Substance: DESOXIMETASONE
     Route: 003
  185. DESOXIMETASONE [Suspect]
     Active Substance: DESOXIMETASONE
     Route: 003
  186. DESOXIMETASONE [Suspect]
     Active Substance: DESOXIMETASONE
     Route: 048
  187. DESOXIMETASONE [Suspect]
     Active Substance: DESOXIMETASONE
     Route: 065
  188. DESOXIMETASONE [Suspect]
     Active Substance: DESOXIMETASONE
     Route: 048
  189. DESOXIMETASONE [Suspect]
     Active Substance: DESOXIMETASONE
     Route: 016
  190. DESOXIMETASONE [Suspect]
     Active Substance: DESOXIMETASONE
     Route: 042
  191. DESOXIMETASONE [Suspect]
     Active Substance: DESOXIMETASONE
     Route: 003
  192. DESOXIMETASONE [Suspect]
     Active Substance: DESOXIMETASONE
     Route: 048
  193. DESOXIMETASONE [Suspect]
     Active Substance: DESOXIMETASONE
     Route: 061
  194. DESOXIMETASONE [Suspect]
     Active Substance: DESOXIMETASONE
     Route: 065
  195. DESOXIMETASONE [Suspect]
     Active Substance: DESOXIMETASONE
     Route: 003
  196. DESOXIMETASONE [Suspect]
     Active Substance: DESOXIMETASONE
     Route: 065
  197. DESOXIMETASONE [Suspect]
     Active Substance: DESOXIMETASONE
     Route: 065
  198. DESOXIMETASONE [Suspect]
     Active Substance: DESOXIMETASONE
     Route: 065
  199. DESOXIMETASONE [Suspect]
     Active Substance: DESOXIMETASONE
     Route: 061
  200. DESOXIMETASONE [Suspect]
     Active Substance: DESOXIMETASONE
     Route: 048
  201. DESOXIMETASONE [Suspect]
     Active Substance: DESOXIMETASONE
     Route: 048
  202. DESOXIMETASONE [Suspect]
     Active Substance: DESOXIMETASONE
     Route: 048
  203. DESOXIMETASONE [Suspect]
     Active Substance: DESOXIMETASONE
     Route: 048
  204. DESOXIMETASONE [Suspect]
     Active Substance: DESOXIMETASONE
     Route: 058
  205. DESOXIMETASONE [Suspect]
     Active Substance: DESOXIMETASONE
     Route: 058
  206. DESOXIMETASONE [Suspect]
     Active Substance: DESOXIMETASONE
     Route: 065
  207. DESOXIMETASONE [Suspect]
     Active Substance: DESOXIMETASONE
     Dosage: UNK, 1 DOSE WEEKLY
     Route: 065
  208. DESOXIMETASONE [Suspect]
     Active Substance: DESOXIMETASONE
     Route: 058
  209. DESOXIMETASONE [Suspect]
     Active Substance: DESOXIMETASONE
     Route: 058
  210. DESOXIMETASONE [Suspect]
     Active Substance: DESOXIMETASONE
     Route: 058
  211. DESOXIMETASONE [Suspect]
     Active Substance: DESOXIMETASONE
     Route: 058
  212. DESOXIMETASONE [Suspect]
     Active Substance: DESOXIMETASONE
     Route: 058
  213. DESOXIMETASONE [Suspect]
     Active Substance: DESOXIMETASONE
     Route: 048
  214. DESOXIMETASONE [Suspect]
     Active Substance: DESOXIMETASONE
     Route: 048
  215. DESOXIMETASONE [Suspect]
     Active Substance: DESOXIMETASONE
     Route: 048
  216. DESOXIMETASONE [Suspect]
     Active Substance: DESOXIMETASONE
     Route: 048
  217. DESOXIMETASONE [Suspect]
     Active Substance: DESOXIMETASONE
     Route: 048
  218. DESOXIMETASONE [Suspect]
     Active Substance: DESOXIMETASONE
     Route: 048
  219. DESOXIMETASONE [Suspect]
     Active Substance: DESOXIMETASONE
     Route: 003
  220. DESOXIMETASONE [Suspect]
     Active Substance: DESOXIMETASONE
     Route: 003
  221. DESOXIMETASONE [Suspect]
     Active Substance: DESOXIMETASONE
     Route: 048
  222. DESOXIMETASONE [Suspect]
     Active Substance: DESOXIMETASONE
     Route: 048
  223. DESOXIMETASONE [Suspect]
     Active Substance: DESOXIMETASONE
     Route: 003
  224. DESOXIMETASONE [Suspect]
     Active Substance: DESOXIMETASONE
     Route: 003
  225. DESOXIMETASONE [Suspect]
     Active Substance: DESOXIMETASONE
     Route: 065
  226. DESOXIMETASONE [Suspect]
     Active Substance: DESOXIMETASONE
     Route: 003
  227. DESOXIMETASONE [Suspect]
     Active Substance: DESOXIMETASONE
     Route: 003
  228. DESOXIMETASONE [Suspect]
     Active Substance: DESOXIMETASONE
     Route: 048
  229. DESOXIMETASONE [Suspect]
     Active Substance: DESOXIMETASONE
     Route: 048
  230. DESOXIMETASONE [Suspect]
     Active Substance: DESOXIMETASONE
     Route: 048
  231. TOPICORT [Suspect]
     Active Substance: DESOXIMETASONE
     Indication: Product used for unknown indication
     Route: 003
  232. TOPICORT [Suspect]
     Active Substance: DESOXIMETASONE
     Indication: Rheumatoid arthritis
     Route: 058
  233. ENBREL [Suspect]
     Active Substance: ETANERCEPT
     Indication: Rheumatoid arthritis
     Route: 058
  234. ENBREL [Suspect]
     Active Substance: ETANERCEPT
     Indication: Psoriatic arthropathy
     Route: 058
  235. ENBREL [Suspect]
     Active Substance: ETANERCEPT
     Route: 058
  236. ENBREL [Suspect]
     Active Substance: ETANERCEPT
     Route: 065
  237. ENBREL [Suspect]
     Active Substance: ETANERCEPT
     Route: 058
  238. ENBREL [Suspect]
     Active Substance: ETANERCEPT
     Route: 061
  239. ENBREL [Suspect]
     Active Substance: ETANERCEPT
     Dosage: 20 MG, QD
     Route: 058
  240. ENBREL [Suspect]
     Active Substance: ETANERCEPT
     Dosage: 20 MG, 1 DOSE WEEKLY
     Route: 058
  241. ENBREL [Suspect]
     Active Substance: ETANERCEPT
     Route: 048
  242. ENBREL [Suspect]
     Active Substance: ETANERCEPT
     Route: 065
  243. ENBREL [Suspect]
     Active Substance: ETANERCEPT
     Route: 058
  244. FOLIC ACID [Suspect]
     Active Substance: FOLIC ACID
     Indication: Rheumatoid arthritis
     Route: 065
  245. FOLIC ACID [Suspect]
     Active Substance: FOLIC ACID
     Route: 058
  246. FOLIC ACID [Suspect]
     Active Substance: FOLIC ACID
     Route: 065
  247. FOLIC ACID [Suspect]
     Active Substance: FOLIC ACID
     Route: 048
  248. FOLIC ACID [Suspect]
     Active Substance: FOLIC ACID
     Route: 065
  249. FOLIC ACID [Suspect]
     Active Substance: FOLIC ACID
     Route: 065
  250. FOLIC ACID [Suspect]
     Active Substance: FOLIC ACID
     Route: 065
  251. FOLIC ACID [Suspect]
     Active Substance: FOLIC ACID
     Route: 065
  252. FOLIC ACID [Suspect]
     Active Substance: FOLIC ACID
     Route: 058
  253. FOLIC ACID [Suspect]
     Active Substance: FOLIC ACID
     Dosage: 5 MILLIGRAM, QD
     Route: 048
  254. FOLIC ACID [Suspect]
     Active Substance: FOLIC ACID
     Route: 065
  255. FOLIC ACID [Suspect]
     Active Substance: FOLIC ACID
     Route: 048
  256. FOLIC ACID [Suspect]
     Active Substance: FOLIC ACID
     Route: 058
  257. FOLIC ACID [Suspect]
     Active Substance: FOLIC ACID
     Route: 048
  258. FOLIC ACID [Suspect]
     Active Substance: FOLIC ACID
     Route: 065
  259. FOLIC ACID [Suspect]
     Active Substance: FOLIC ACID
     Route: 058
  260. FOSAMAX [Suspect]
     Active Substance: ALENDRONATE SODIUM
     Indication: Rheumatoid arthritis
     Route: 048
  261. FOSAMAX [Suspect]
     Active Substance: ALENDRONATE SODIUM
     Route: 048
  262. FOSAMAX [Suspect]
     Active Substance: ALENDRONATE SODIUM
     Route: 048
  263. FOSAMAX [Suspect]
     Active Substance: ALENDRONATE SODIUM
     Route: 065
  264. FOSAMAX [Suspect]
     Active Substance: ALENDRONATE SODIUM
     Route: 058
  265. FOSAMAX [Suspect]
     Active Substance: ALENDRONATE SODIUM
     Route: 048
  266. FOSAMAX [Suspect]
     Active Substance: ALENDRONATE SODIUM
     Route: 048
  267. FOSAMAX [Suspect]
     Active Substance: ALENDRONATE SODIUM
     Route: 048
  268. FOSAMAX [Suspect]
     Active Substance: ALENDRONATE SODIUM
     Route: 048
  269. FOSAMAX [Suspect]
     Active Substance: ALENDRONATE SODIUM
     Route: 048
  270. FOSAMAX [Suspect]
     Active Substance: ALENDRONATE SODIUM
     Route: 048
  271. FOSAMAX [Suspect]
     Active Substance: ALENDRONATE SODIUM
     Route: 048
  272. FOSAMAX [Suspect]
     Active Substance: ALENDRONATE SODIUM
     Route: 005
  273. FOSAMAX [Suspect]
     Active Substance: ALENDRONATE SODIUM
     Route: 005
  274. FOSAMAX [Suspect]
     Active Substance: ALENDRONATE SODIUM
     Route: 005
  275. FOSAMAX [Suspect]
     Active Substance: ALENDRONATE SODIUM
     Route: 016
  276. FOSAMAX [Suspect]
     Active Substance: ALENDRONATE SODIUM
     Route: 065
  277. FOSAMAX [Suspect]
     Active Substance: ALENDRONATE SODIUM
     Route: 065
  278. FOSAMAX [Suspect]
     Active Substance: ALENDRONATE SODIUM
     Route: 065
  279. FOSAMAX [Suspect]
     Active Substance: ALENDRONATE SODIUM
     Route: 065
  280. FOSAMAX [Suspect]
     Active Substance: ALENDRONATE SODIUM
     Route: 065
  281. FOSAMAX [Suspect]
     Active Substance: ALENDRONATE SODIUM
     Route: 058
  282. FOSAMAX [Suspect]
     Active Substance: ALENDRONATE SODIUM
     Route: 058
  283. FOSAMAX [Suspect]
     Active Substance: ALENDRONATE SODIUM
     Route: 058
  284. GOLIMUMAB [Suspect]
     Active Substance: GOLIMUMAB
     Indication: Rheumatoid arthritis
     Route: 058
  285. GOLIMUMAB [Suspect]
     Active Substance: GOLIMUMAB
     Route: 065
  286. GOLIMUMAB [Suspect]
     Active Substance: GOLIMUMAB
     Route: 042
  287. GOLIMUMAB [Suspect]
     Active Substance: GOLIMUMAB
     Route: 058
  288. GOLIMUMAB [Suspect]
     Active Substance: GOLIMUMAB
     Route: 052
  289. GOLIMUMAB [Suspect]
     Active Substance: GOLIMUMAB
     Route: 058
  290. HUMIRA [Suspect]
     Active Substance: ADALIMUMAB
     Indication: Rheumatoid arthritis
     Route: 058
  291. HUMIRA [Suspect]
     Active Substance: ADALIMUMAB
     Indication: Psoriatic arthropathy
     Route: 058
  292. HUMIRA [Suspect]
     Active Substance: ADALIMUMAB
     Route: 058
  293. HUMIRA [Suspect]
     Active Substance: ADALIMUMAB
     Route: 058
  294. HUMIRA [Suspect]
     Active Substance: ADALIMUMAB
     Route: 058
  295. HUMIRA [Suspect]
     Active Substance: ADALIMUMAB
     Route: 058
  296. HUMIRA [Suspect]
     Active Substance: ADALIMUMAB
     Route: 058
  297. HUMIRA [Suspect]
     Active Substance: ADALIMUMAB
     Route: 065
  298. HUMIRA [Suspect]
     Active Substance: ADALIMUMAB
     Route: 058
  299. HUMIRA [Suspect]
     Active Substance: ADALIMUMAB
     Route: 058
  300. HUMIRA [Suspect]
     Active Substance: ADALIMUMAB
     Route: 058
  301. HUMIRA [Suspect]
     Active Substance: ADALIMUMAB
     Route: 058
  302. HUMIRA [Suspect]
     Active Substance: ADALIMUMAB
     Route: 058
  303. HYDROCORTISONE [Suspect]
     Active Substance: HYDROCORTISONE
     Indication: Rheumatoid arthritis
     Route: 058
  304. HYDROCORTISONE [Suspect]
     Active Substance: HYDROCORTISONE
     Route: 058
  305. HYDROCORTISONE [Suspect]
     Active Substance: HYDROCORTISONE
     Route: 048
  306. HYDROCORTISONE [Suspect]
     Active Substance: HYDROCORTISONE
     Route: 065
  307. HYDROCORTISONE [Suspect]
     Active Substance: HYDROCORTISONE
     Route: 003
  308. HYDROCORTISONE [Suspect]
     Active Substance: HYDROCORTISONE
     Route: 048
  309. HYDROCORTISONE [Suspect]
     Active Substance: HYDROCORTISONE
     Route: 065
  310. HYDROCORTISONE [Suspect]
     Active Substance: HYDROCORTISONE
     Route: 061
  311. HYDROCORTISONE [Suspect]
     Active Substance: HYDROCORTISONE
     Route: 003
  312. HYDROCORTISONE [Suspect]
     Active Substance: HYDROCORTISONE
     Route: 003
  313. HYDROCORTISONE [Suspect]
     Active Substance: HYDROCORTISONE
     Route: 065
  314. HYDROCORTISONE [Suspect]
     Active Substance: HYDROCORTISONE
     Route: 048
  315. HYDROCORTISONE [Suspect]
     Active Substance: HYDROCORTISONE
     Route: 058
  316. HYDROCORTISONE [Suspect]
     Active Substance: HYDROCORTISONE
     Route: 050
  317. HYDROXYCHLOROQUINE [Suspect]
     Active Substance: HYDROXYCHLOROQUINE
     Indication: Rheumatoid arthritis
     Dosage: 400 MG
     Route: 048
  318. HYDROXYCHLOROQUINE [Suspect]
     Active Substance: HYDROXYCHLOROQUINE
     Indication: Systemic lupus erythematosus
     Dosage: 40 MILLIGRAM, QD
     Route: 065
  319. HYDROXYCHLOROQUINE [Suspect]
     Active Substance: HYDROXYCHLOROQUINE
     Dosage: 400 MG, QD
     Route: 048
  320. HYDROXYCHLOROQUINE [Suspect]
     Active Substance: HYDROXYCHLOROQUINE
     Route: 065
  321. HYDROXYCHLOROQUINE [Suspect]
     Active Substance: HYDROXYCHLOROQUINE
     Indication: Rheumatoid arthritis
     Dosage: 400 MG, QD
     Route: 048
  322. HYDROXYCHLOROQUINE [Suspect]
     Active Substance: HYDROXYCHLOROQUINE
     Indication: Systemic lupus erythematosus
     Route: 048
  323. HYDROXYCHLOROQUINE [Suspect]
     Active Substance: HYDROXYCHLOROQUINE
     Dosage: 400 MG, QD
     Route: 048
  324. HYDROXYCHLOROQUINE [Suspect]
     Active Substance: HYDROXYCHLOROQUINE
     Route: 065
  325. HYDROXYCHLOROQUINE [Suspect]
     Active Substance: HYDROXYCHLOROQUINE
     Route: 048
  326. HYDROXYCHLOROQUINE [Suspect]
     Active Substance: HYDROXYCHLOROQUINE
     Route: 065
  327. HYDROXYCHLOROQUINE [Suspect]
     Active Substance: HYDROXYCHLOROQUINE
     Route: 065
  328. HYDROXYCHLOROQUINE [Suspect]
     Active Substance: HYDROXYCHLOROQUINE
     Route: 048
  329. HYDROXYCHLOROQUINE [Suspect]
     Active Substance: HYDROXYCHLOROQUINE
     Route: 048
  330. HYDROXYCHLOROQUINE [Suspect]
     Active Substance: HYDROXYCHLOROQUINE
     Dosage: 400 MG, QD
     Route: 058
  331. INFLIXIMAB [Suspect]
     Active Substance: INFLIXIMAB
     Indication: Rheumatoid arthritis
     Route: 042
  332. INFLIXIMAB [Suspect]
     Active Substance: INFLIXIMAB
     Indication: Psoriatic arthropathy
     Route: 042
  333. INFLIXIMAB [Suspect]
     Active Substance: INFLIXIMAB
     Route: 065
  334. INFLIXIMAB [Suspect]
     Active Substance: INFLIXIMAB
     Route: 042
  335. INFLIXIMAB [Suspect]
     Active Substance: INFLIXIMAB
     Route: 042
  336. INFLIXIMAB [Suspect]
     Active Substance: INFLIXIMAB
     Route: 065
  337. LEFLUNOMIDE [Suspect]
     Active Substance: LEFLUNOMIDE
     Indication: Product used for unknown indication
     Route: 048
  338. LEFLUNOMIDE [Suspect]
     Active Substance: LEFLUNOMIDE
     Route: 065
  339. METHOTREXATE [Suspect]
     Active Substance: METHOTREXATE
     Indication: Rheumatoid arthritis
     Route: 065
  340. METHOTREXATE [Suspect]
     Active Substance: METHOTREXATE
     Dosage: 20 MG, 1 DOSE WEEKLY
     Route: 048
  341. METHOTREXATE [Suspect]
     Active Substance: METHOTREXATE
     Route: 042
  342. METHOTREXATE [Suspect]
     Active Substance: METHOTREXATE
     Route: 048
  343. METHOTREXATE [Suspect]
     Active Substance: METHOTREXATE
     Dosage: 25 MG, QD
     Route: 048
  344. METHOTREXATE [Suspect]
     Active Substance: METHOTREXATE
     Dosage: 25 MG, QD
     Route: 048
  345. METHOTREXATE [Suspect]
     Active Substance: METHOTREXATE
     Route: 048
  346. METHOTREXATE [Suspect]
     Active Substance: METHOTREXATE
     Route: 058
  347. METHOTREXATE [Suspect]
     Active Substance: METHOTREXATE
     Dosage: 20 MG, 1 DOSE WEEKLY
     Route: 048
  348. METHOTREXATE [Suspect]
     Active Substance: METHOTREXATE
     Route: 048
  349. METHOTREXATE [Suspect]
     Active Substance: METHOTREXATE
     Route: 048
  350. METHOTREXATE [Suspect]
     Active Substance: METHOTREXATE
     Route: 048
  351. METHOTREXATE [Suspect]
     Active Substance: METHOTREXATE
     Route: 048
  352. METHOTREXATE [Suspect]
     Active Substance: METHOTREXATE
     Dosage: 20 MG, QD
     Route: 048
  353. METHOTREXATE [Suspect]
     Active Substance: METHOTREXATE
     Dosage: 20 MG, QD
     Route: 048
  354. METHOTREXATE [Suspect]
     Active Substance: METHOTREXATE
     Route: 048
  355. METHOTREXATE [Suspect]
     Active Substance: METHOTREXATE
     Route: 048
  356. METHOTREXATE [Suspect]
     Active Substance: METHOTREXATE
     Route: 065
  357. METHOTREXATE [Suspect]
     Active Substance: METHOTREXATE
     Route: 065
  358. METHOTREXATE [Suspect]
     Active Substance: METHOTREXATE
     Route: 065
  359. METHOTREXATE [Suspect]
     Active Substance: METHOTREXATE
     Dosage: 25 MG, QD
     Route: 048
  360. METHOTREXATE [Suspect]
     Active Substance: METHOTREXATE
     Route: 048
  361. METHOTREXATE [Suspect]
     Active Substance: METHOTREXATE
     Route: 058
  362. METHOTREXATE [Suspect]
     Active Substance: METHOTREXATE
     Dosage: 500 MILLIGRAM, BID
     Route: 065
  363. METHOTREXATE [Suspect]
     Active Substance: METHOTREXATE
     Dosage: 500 MILLIGRAM, BID
     Route: 065
  364. METHOTREXATE [Suspect]
     Active Substance: METHOTREXATE
     Route: 065
  365. METHOTREXATE [Suspect]
     Active Substance: METHOTREXATE
     Route: 058
  366. METHOTREXATE [Suspect]
     Active Substance: METHOTREXATE
     Route: 065
  367. METHOTREXATE [Suspect]
     Active Substance: METHOTREXATE
     Dosage: 20 MG, 1 DOSE WEEKLY
     Route: 058
  368. METHOTREXATE [Suspect]
     Active Substance: METHOTREXATE
     Route: 013
  369. METHOTREXATE [Suspect]
     Active Substance: METHOTREXATE
     Route: 013
  370. METHOTREXATE [Suspect]
     Active Substance: METHOTREXATE
     Dosage: 25 MG, QD
     Route: 048
  371. METHOTREXATE [Suspect]
     Active Substance: METHOTREXATE
     Route: 048
  372. METHOTREXATE [Suspect]
     Active Substance: METHOTREXATE
     Dosage: 25 MILLIGRAM, 1 DOSE WEEKLY
     Route: 037
  373. METHOTREXATE [Suspect]
     Active Substance: METHOTREXATE
     Dosage: 25 MG, QD
     Route: 048
  374. METHOTREXATE [Suspect]
     Active Substance: METHOTREXATE
     Route: 048
  375. METHOTREXATE [Suspect]
     Active Substance: METHOTREXATE
     Dosage: 15 MILLIGRAM, QD
     Route: 048
  376. METHOTREXATE [Suspect]
     Active Substance: METHOTREXATE
     Dosage: 20 MILLIGRAM, QD
     Route: 048
  377. METHOTREXATE [Suspect]
     Active Substance: METHOTREXATE
     Route: 048
  378. METHOTREXATE [Suspect]
     Active Substance: METHOTREXATE
     Route: 048
  379. METHOTREXATE [Suspect]
     Active Substance: METHOTREXATE
     Route: 048
  380. METHOTREXATE [Suspect]
     Active Substance: METHOTREXATE
     Dosage: 2 GRAM, QD
     Route: 048
  381. METHOTREXATE [Suspect]
     Active Substance: METHOTREXATE
     Route: 048
  382. METHOTREXATE [Suspect]
     Active Substance: METHOTREXATE
     Route: 048
  383. METHOTREXATE [Suspect]
     Active Substance: METHOTREXATE
     Route: 058
  384. METHOTREXATE [Suspect]
     Active Substance: METHOTREXATE
     Route: 058
  385. ORENCIA [Suspect]
     Active Substance: ABATACEPT
     Indication: Rheumatoid arthritis
     Dosage: 120 MG, 1 DOSE WEEKLY
     Route: 058
  386. ORENCIA [Suspect]
     Active Substance: ABATACEPT
     Dosage: 125 MG, QD
     Route: 042
  387. ORENCIA [Suspect]
     Active Substance: ABATACEPT
     Dosage: 17.857 MG, QD
     Route: 042
  388. ORENCIA [Suspect]
     Active Substance: ABATACEPT
     Route: 058
  389. ORENCIA [Suspect]
     Active Substance: ABATACEPT
     Dosage: 17.857 MG, QD
     Route: 058
  390. ORENCIA [Suspect]
     Active Substance: ABATACEPT
     Route: 015
  391. ORENCIA [Suspect]
     Active Substance: ABATACEPT
     Route: 058
  392. ORENCIA [Suspect]
     Active Substance: ABATACEPT
     Route: 042
  393. ORENCIA [Suspect]
     Active Substance: ABATACEPT
     Dosage: 125 MG, 1 DOSE WEEKLY
     Route: 058
  394. ORENCIA [Suspect]
     Active Substance: ABATACEPT
     Dosage: 18 MG, QD
     Route: 058
  395. ORENCIA [Suspect]
     Active Substance: ABATACEPT
     Route: 042
  396. ORENCIA [Suspect]
     Active Substance: ABATACEPT
     Dosage: UNK, QD
     Route: 042
  397. ORENCIA [Suspect]
     Active Substance: ABATACEPT
     Route: 042
  398. ORENCIA [Suspect]
     Active Substance: ABATACEPT
     Dosage: 125 MG, 1 DOSE WEEKLY
     Route: 058
  399. ORENCIA [Suspect]
     Active Substance: ABATACEPT
     Dosage: 125 MG, 1 DOSE WEEKLY
     Route: 058
  400. ORENCIA [Suspect]
     Active Substance: ABATACEPT
     Dosage: 17.857 MG, QD
     Route: 058
  401. ORENCIA [Suspect]
     Active Substance: ABATACEPT
     Dosage: 18 MG, QD
     Route: 058
  402. ORENCIA [Suspect]
     Active Substance: ABATACEPT
     Route: 042
  403. ORENCIA [Suspect]
     Active Substance: ABATACEPT
     Dosage: 6 MILLIGRAM, QD
     Route: 048
  404. ORENCIA [Suspect]
     Active Substance: ABATACEPT
     Route: 058
  405. ORENCIA [Suspect]
     Active Substance: ABATACEPT
     Route: 065
  406. ORENCIA [Suspect]
     Active Substance: ABATACEPT
     Route: 065
  407. ORENCIA [Suspect]
     Active Substance: ABATACEPT
     Route: 048
  408. ORENCIA [Suspect]
     Active Substance: ABATACEPT
     Route: 048
  409. ORENCIA [Suspect]
     Active Substance: ABATACEPT
     Dosage: UNK UNK, QD
     Route: 048
  410. ORENCIA [Suspect]
     Active Substance: ABATACEPT
     Dosage: 120 MG, 1 DOSE WEEKLY
     Route: 058
  411. ORENCIA [Suspect]
     Active Substance: ABATACEPT
     Route: 042
  412. ORENCIA [Suspect]
     Active Substance: ABATACEPT
     Route: 042
  413. ORENCIA [Suspect]
     Active Substance: ABATACEPT
     Dosage: UNK UNK, QD
     Route: 065
  414. ORENCIA [Suspect]
     Active Substance: ABATACEPT
     Dosage: UNK UNK, QD
     Route: 041
  415. ORENCIA [Suspect]
     Active Substance: ABATACEPT
     Route: 048
  416. ORENCIA [Suspect]
     Active Substance: ABATACEPT
     Dosage: UNK UNK, 1 DOSE WEEKLY
     Route: 048
  417. ORENCIA [Suspect]
     Active Substance: ABATACEPT
     Route: 017
  418. ORENCIA [Suspect]
     Active Substance: ABATACEPT
     Route: 065
  419. OXYCODONE [Suspect]
     Active Substance: OXYCODONE
     Indication: Product used for unknown indication
     Route: 065
  420. OXYCODONE [Suspect]
     Active Substance: OXYCODONE
     Route: 065
  421. OXYCODONE [Suspect]
     Active Substance: OXYCODONE
     Route: 065
  422. OXYCODONE [Suspect]
     Active Substance: OXYCODONE
     Route: 065
  423. OXYCODONE [Suspect]
     Active Substance: OXYCODONE
     Route: 065
  424. OXYCODONE HYDROCHLORIDE [Suspect]
     Active Substance: OXYCODONE HYDROCHLORIDE
     Indication: Product used for unknown indication
     Route: 065
  425. OXYCODONE HYDROCHLORIDE [Suspect]
     Active Substance: OXYCODONE HYDROCHLORIDE
     Route: 065
  426. OXYCODONE HYDROCHLORIDE [Suspect]
     Active Substance: OXYCODONE HYDROCHLORIDE
     Route: 065
  427. OXYCODONE TEREPHTHALATE [Suspect]
     Active Substance: OXYCODONE TEREPHTHALATE
     Indication: Product used for unknown indication
     Route: 065
  428. OXYCODONE TEREPHTHALATE [Suspect]
     Active Substance: OXYCODONE TEREPHTHALATE
     Route: 016
  429. PERIOGARD [Suspect]
     Active Substance: CHLORHEXIDINE GLUCONATE
     Indication: Product used for unknown indication
     Route: 002
  430. PERIOGARD [Suspect]
     Active Substance: CHLORHEXIDINE GLUCONATE
     Route: 002
  431. PERIOGARD [Suspect]
     Active Substance: CHLORHEXIDINE GLUCONATE
     Route: 065
  432. PERIOGARD [Suspect]
     Active Substance: CHLORHEXIDINE GLUCONATE
     Route: 048
  433. PERIOGARD [Suspect]
     Active Substance: CHLORHEXIDINE GLUCONATE
     Route: 016
  434. PERIOGARD [Suspect]
     Active Substance: CHLORHEXIDINE GLUCONATE
     Route: 016
  435. PERIOGARD [Suspect]
     Active Substance: CHLORHEXIDINE GLUCONATE
     Route: 065
  436. PHTHALYLSULFATHIAZOLE [Suspect]
     Active Substance: PHTHALYLSULFATHIAZOLE
     Indication: Rheumatoid arthritis
     Route: 048
  437. PHTHALYLSULFATHIAZOLE [Suspect]
     Active Substance: PHTHALYLSULFATHIAZOLE
     Route: 048
  438. PHTHALYLSULFATHIAZOLE [Suspect]
     Active Substance: PHTHALYLSULFATHIAZOLE
     Dosage: 2000 MG, QD
     Route: 048
  439. PHTHALYLSULFATHIAZOLE [Suspect]
     Active Substance: PHTHALYLSULFATHIAZOLE
     Route: 048
  440. PHTHALYLSULFATHIAZOLE [Suspect]
     Active Substance: PHTHALYLSULFATHIAZOLE
     Dosage: UNK, QD
     Route: 048
  441. PHTHALYLSULFATHIAZOLE [Suspect]
     Active Substance: PHTHALYLSULFATHIAZOLE
     Dosage: 1000 MG, QD
     Route: 065
  442. PHTHALYLSULFATHIAZOLE [Suspect]
     Active Substance: PHTHALYLSULFATHIAZOLE
     Route: 048
  443. PHTHALYLSULFATHIAZOLE [Suspect]
     Active Substance: PHTHALYLSULFATHIAZOLE
     Route: 048
  444. PHTHALYLSULFATHIAZOLE [Suspect]
     Active Substance: PHTHALYLSULFATHIAZOLE
     Dosage: 2000 MG, QD
     Route: 048
  445. PHTHALYLSULFATHIAZOLE [Suspect]
     Active Substance: PHTHALYLSULFATHIAZOLE
     Route: 016
  446. PHTHALYLSULFATHIAZOLE [Suspect]
     Active Substance: PHTHALYLSULFATHIAZOLE
     Route: 042
  447. PHTHALYLSULFATHIAZOLE [Suspect]
     Active Substance: PHTHALYLSULFATHIAZOLE
     Route: 065
  448. PHTHALYLSULFATHIAZOLE [Suspect]
     Active Substance: PHTHALYLSULFATHIAZOLE
     Dosage: 1000 MG, QD
     Route: 065
  449. PHTHALYLSULFATHIAZOLE [Suspect]
     Active Substance: PHTHALYLSULFATHIAZOLE
     Dosage: 1000 MG, QD
     Route: 065
  450. PREDNISOLONE [Suspect]
     Active Substance: PREDNISOLONE
     Indication: Product used for unknown indication
     Route: 065
  451. PREDNISOLONE [Suspect]
     Active Substance: PREDNISOLONE
     Route: 065
  452. PREDNISOLONE [Suspect]
     Active Substance: PREDNISOLONE
     Dosage: 7.5 MILLIGRAM, QD
     Route: 048
  453. PREDNISOLONE [Suspect]
     Active Substance: PREDNISOLONE
     Route: 048
  454. PSEUDOEPHEDRINE HYDROCHLORIDE [Suspect]
     Active Substance: PSEUDOEPHEDRINE HYDROCHLORIDE
     Indication: Product used for unknown indication
     Route: 065
  455. PSEUDOEPHEDRINE HYDROCHLORIDE [Suspect]
     Active Substance: PSEUDOEPHEDRINE HYDROCHLORIDE
     Route: 065
  456. PSEUDOEPHEDRINE HYDROCHLORIDE [Suspect]
     Active Substance: PSEUDOEPHEDRINE HYDROCHLORIDE
     Route: 065
  457. CETIRIZINE HYDROCHLORIDE\PSEUDOEPHEDRINE HYDROCHLORIDE [Suspect]
     Active Substance: CETIRIZINE HYDROCHLORIDE\PSEUDOEPHEDRINE HYDROCHLORIDE
     Indication: Rheumatoid arthritis
     Route: 048
  458. CETIRIZINE HYDROCHLORIDE\PSEUDOEPHEDRINE HYDROCHLORIDE [Suspect]
     Active Substance: CETIRIZINE HYDROCHLORIDE\PSEUDOEPHEDRINE HYDROCHLORIDE
     Route: 065
  459. CETIRIZINE HYDROCHLORIDE\PSEUDOEPHEDRINE HYDROCHLORIDE [Suspect]
     Active Substance: CETIRIZINE HYDROCHLORIDE\PSEUDOEPHEDRINE HYDROCHLORIDE
     Route: 065
  460. CETIRIZINE HYDROCHLORIDE\PSEUDOEPHEDRINE HYDROCHLORIDE [Suspect]
     Active Substance: CETIRIZINE HYDROCHLORIDE\PSEUDOEPHEDRINE HYDROCHLORIDE
     Route: 048
  461. CETIRIZINE HYDROCHLORIDE\PSEUDOEPHEDRINE HYDROCHLORIDE [Suspect]
     Active Substance: CETIRIZINE HYDROCHLORIDE\PSEUDOEPHEDRINE HYDROCHLORIDE
     Route: 065
  462. CETIRIZINE HYDROCHLORIDE\PSEUDOEPHEDRINE HYDROCHLORIDE [Suspect]
     Active Substance: CETIRIZINE HYDROCHLORIDE\PSEUDOEPHEDRINE HYDROCHLORIDE
     Route: 065
  463. REMICADE [Suspect]
     Active Substance: INFLIXIMAB
     Indication: Rheumatoid arthritis
     Route: 042
  464. REMICADE [Suspect]
     Active Substance: INFLIXIMAB
     Indication: Psoriatic arthropathy
     Route: 042
  465. REMICADE [Suspect]
     Active Substance: INFLIXIMAB
     Indication: Psoriasis
     Route: 065
  466. REMICADE [Suspect]
     Active Substance: INFLIXIMAB
     Indication: Crohn^s disease
     Route: 065
  467. REMICADE [Suspect]
     Active Substance: INFLIXIMAB
     Indication: Ankylosing spondylitis
     Route: 042
  468. RITUXIMAB [Suspect]
     Active Substance: RITUXIMAB
     Indication: Rheumatoid arthritis
     Route: 041
  469. RITUXIMAB [Suspect]
     Active Substance: RITUXIMAB
     Indication: Abdominal discomfort
     Route: 042
  470. RITUXIMAB [Suspect]
     Active Substance: RITUXIMAB
     Route: 058
  471. RITUXIMAB [Suspect]
     Active Substance: RITUXIMAB
     Route: 042
  472. RITUXIMAB [Suspect]
     Active Substance: RITUXIMAB
     Route: 058
  473. RITUXIMAB [Suspect]
     Active Substance: RITUXIMAB
     Route: 040
  474. RITUXIMAB [Suspect]
     Active Substance: RITUXIMAB
     Route: 065
  475. RITUXIMAB [Suspect]
     Active Substance: RITUXIMAB
     Route: 016
  476. RITUXIMAB [Suspect]
     Active Substance: RITUXIMAB
     Route: 042
  477. RITUXIMAB [Suspect]
     Active Substance: RITUXIMAB
     Route: 042
  478. RITUXIMAB [Suspect]
     Active Substance: RITUXIMAB
     Route: 016
  479. RITUXIMAB [Suspect]
     Active Substance: RITUXIMAB
     Route: 016
  480. RITUXIMAB [Suspect]
     Active Substance: RITUXIMAB
     Route: 016
  481. SIMPONI [Suspect]
     Active Substance: GOLIMUMAB
     Indication: Rheumatoid arthritis
     Route: 058
  482. SIMPONI [Suspect]
     Active Substance: GOLIMUMAB
     Indication: Psoriatic arthropathy
     Route: 058
  483. SIMPONI [Suspect]
     Active Substance: GOLIMUMAB
     Route: 058
  484. SIMPONI [Suspect]
     Active Substance: GOLIMUMAB
     Route: 058
  485. SIMPONI [Suspect]
     Active Substance: GOLIMUMAB
     Route: 058
  486. SIMPONI [Suspect]
     Active Substance: GOLIMUMAB
     Route: 058
  487. SIMPONI [Suspect]
     Active Substance: GOLIMUMAB
     Route: 042
  488. SIMPONI [Suspect]
     Active Substance: GOLIMUMAB
     Route: 052
  489. STELARA [Suspect]
     Active Substance: USTEKINUMAB
     Indication: Rheumatoid arthritis
     Route: 058
  490. STELARA [Suspect]
     Active Substance: USTEKINUMAB
     Indication: Psoriatic arthropathy
     Route: 058
  491. STELARA [Suspect]
     Active Substance: USTEKINUMAB
     Route: 058
  492. STELARA [Suspect]
     Active Substance: USTEKINUMAB
     Route: 042
  493. STELARA [Suspect]
     Active Substance: USTEKINUMAB
     Route: 042
  494. STELARA [Suspect]
     Active Substance: USTEKINUMAB
     Route: 065
  495. STELARA [Suspect]
     Active Substance: USTEKINUMAB
     Route: 065
  496. SULFAMETHOXAZOLE [Suspect]
     Active Substance: SULFAMETHOXAZOLE
     Indication: Rheumatoid arthritis
     Route: 065
  497. SULFAMETHOXAZOLE [Suspect]
     Active Substance: SULFAMETHOXAZOLE
     Route: 067
  498. SULFAMETHOXAZOLE [Suspect]
     Active Substance: SULFAMETHOXAZOLE
     Route: 065
  499. SULFAMETHOXAZOLE [Suspect]
     Active Substance: SULFAMETHOXAZOLE
     Route: 065
  500. SULFAMETHOXAZOLE [Suspect]
     Active Substance: SULFAMETHOXAZOLE
     Route: 065
  501. SULFAMETHOXAZOLE [Suspect]
     Active Substance: SULFAMETHOXAZOLE
     Dosage: UNK UNK, QD
     Route: 065
  502. SULFAMETHOXAZOLE [Suspect]
     Active Substance: SULFAMETHOXAZOLE
     Route: 065
  503. SULFAMETHOXAZOLE [Suspect]
     Active Substance: SULFAMETHOXAZOLE
     Route: 065
  504. SULFAMETHOXAZOLE [Suspect]
     Active Substance: SULFAMETHOXAZOLE
     Route: 065
  505. SULFAMETHOXAZOLE [Suspect]
     Active Substance: SULFAMETHOXAZOLE
     Route: 065
  506. SULFAMETHOXAZOLE [Suspect]
     Active Substance: SULFAMETHOXAZOLE
     Route: 048
  507. SULFAMETHOXAZOLE [Suspect]
     Active Substance: SULFAMETHOXAZOLE
     Route: 048
  508. SULFAMETHOXAZOLE [Suspect]
     Active Substance: SULFAMETHOXAZOLE
     Dosage: UNK UNK, 2 DOSE DAILY
     Route: 048
  509. SULFAMETHOXAZOLE [Suspect]
     Active Substance: SULFAMETHOXAZOLE
     Dosage: 500 MILLIGRAM, QD
     Route: 048
  510. SULFAMETHOXAZOLE [Suspect]
     Active Substance: SULFAMETHOXAZOLE
     Route: 048
  511. SULFAMETHOXAZOLE [Suspect]
     Active Substance: SULFAMETHOXAZOLE
     Route: 048
  512. SULFAMETHOXAZOLE [Suspect]
     Active Substance: SULFAMETHOXAZOLE
     Route: 048
  513. SULFAMETHOXAZOLE [Suspect]
     Active Substance: SULFAMETHOXAZOLE
     Route: 048
  514. SULFAMETHOXAZOLE [Suspect]
     Active Substance: SULFAMETHOXAZOLE
     Route: 048
  515. SULFAMETHOXAZOLE [Suspect]
     Active Substance: SULFAMETHOXAZOLE
     Route: 048
  516. SULFAMETHOXAZOLE [Suspect]
     Active Substance: SULFAMETHOXAZOLE
     Route: 048
  517. SULFAMETHOXAZOLE [Suspect]
     Active Substance: SULFAMETHOXAZOLE
     Route: 048
  518. SULFAMETHOXAZOLE [Suspect]
     Active Substance: SULFAMETHOXAZOLE
     Route: 048
  519. SULFAMETHOXAZOLE [Suspect]
     Active Substance: SULFAMETHOXAZOLE
     Route: 048
  520. INDOMETHACIN [Suspect]
     Active Substance: INDOMETHACIN
     Indication: Product used for unknown indication
     Route: 065
  521. PREDNISONE [Suspect]
     Active Substance: PREDNISONE
     Indication: Rheumatoid arthritis
     Route: 042
  522. PREDNISONE [Suspect]
     Active Substance: PREDNISONE
     Route: 048
  523. PREDNISONE [Suspect]
     Active Substance: PREDNISONE
     Route: 048
  524. PREDNISONE [Suspect]
     Active Substance: PREDNISONE
     Dosage: 7.5 MG, QD
     Route: 048
  525. PREDNISONE [Suspect]
     Active Substance: PREDNISONE
     Route: 065
  526. PREDNISONE [Suspect]
     Active Substance: PREDNISONE
     Route: 048
  527. PREDNISONE [Suspect]
     Active Substance: PREDNISONE
     Dosage: 7.5 MG, QD
     Route: 048
  528. PREDNISONE [Suspect]
     Active Substance: PREDNISONE
     Route: 065
  529. SULFASALAZINE [Suspect]
     Active Substance: SULFASALAZINE
     Indication: Rheumatoid arthritis
     Route: 065
  530. SULFASALAZINE [Suspect]
     Active Substance: SULFASALAZINE
     Route: 048
  531. SULFASALAZINE [Suspect]
     Active Substance: SULFASALAZINE
     Dosage: 1000 MG
     Route: 048
  532. SULFASALAZINE [Suspect]
     Active Substance: SULFASALAZINE
     Dosage: 500 MG
     Route: 048
  533. SULFASALAZINE [Suspect]
     Active Substance: SULFASALAZINE
     Dosage: 2000 MG, QD
     Route: 048
  534. SULFASALAZINE [Suspect]
     Active Substance: SULFASALAZINE
     Route: 065
  535. SULFASALAZINE [Suspect]
     Active Substance: SULFASALAZINE
     Dosage: UNK UNK, QD
     Route: 048
  536. SULFASALAZINE [Suspect]
     Active Substance: SULFASALAZINE
     Dosage: 1000 MG, BID
     Route: 048
  537. SULFASALAZINE [Suspect]
     Active Substance: SULFASALAZINE
     Route: 048
  538. SULFASALAZINE [Suspect]
     Active Substance: SULFASALAZINE
     Route: 048
  539. SULFASALAZINE [Suspect]
     Active Substance: SULFASALAZINE
     Route: 065
  540. SULFASALAZINE [Suspect]
     Active Substance: SULFASALAZINE
     Dosage: UNK UNK, QD
     Route: 048
  541. SULFASALAZINE [Suspect]
     Active Substance: SULFASALAZINE
     Dosage: UNK UNK, 2 DOSE DAILY
     Route: 048
  542. SULFASALAZINE [Suspect]
     Active Substance: SULFASALAZINE
     Dosage: 4000 MG, QD
     Route: 065
  543. SULFASALAZINE [Suspect]
     Active Substance: SULFASALAZINE
     Route: 065
  544. SULFASALAZINE [Suspect]
     Active Substance: SULFASALAZINE
     Dosage: 2000 MG, QD
     Route: 048
  545. SULFASALAZINE [Suspect]
     Active Substance: SULFASALAZINE
     Route: 048
  546. SULFASALAZINE [Suspect]
     Active Substance: SULFASALAZINE
     Route: 048
  547. SULFASALAZINE [Suspect]
     Active Substance: SULFASALAZINE
     Route: 048
  548. SULFASALAZINE [Suspect]
     Active Substance: SULFASALAZINE
     Route: 048
  549. SULFASALAZINE [Suspect]
     Active Substance: SULFASALAZINE
     Dosage: 500 MILLIGRAM, QD
     Route: 048
  550. SULFASALAZINE [Suspect]
     Active Substance: SULFASALAZINE
     Route: 048
  551. SULFASALAZINE [Suspect]
     Active Substance: SULFASALAZINE
     Route: 048
  552. SULFASALAZINE [Suspect]
     Active Substance: SULFASALAZINE
     Route: 065
  553. SULFASALAZINE [Suspect]
     Active Substance: SULFASALAZINE
     Route: 048
  554. SULFASALAZINE [Suspect]
     Active Substance: SULFASALAZINE
     Route: 048
  555. SULFASALAZINE [Suspect]
     Active Substance: SULFASALAZINE
     Route: 048
  556. SULFASALAZINE [Suspect]
     Active Substance: SULFASALAZINE
     Dosage: 1 GRAM, BID
     Route: 065
  557. SULFASALAZINE [Suspect]
     Active Substance: SULFASALAZINE
     Route: 065
  558. SULFASALAZINE [Suspect]
     Active Substance: SULFASALAZINE
     Route: 065
  559. SULFASALAZINE [Suspect]
     Active Substance: SULFASALAZINE
     Route: 048
  560. SULFASALAZINE [Suspect]
     Active Substance: SULFASALAZINE
     Route: 048
  561. SULFASALAZINE [Suspect]
     Active Substance: SULFASALAZINE
     Route: 048
  562. SULFASALAZINE [Suspect]
     Active Substance: SULFASALAZINE
     Route: 048
  563. SULFASALAZINE [Suspect]
     Active Substance: SULFASALAZINE
     Route: 048
  564. SULFASALAZINE [Suspect]
     Active Substance: SULFASALAZINE
     Route: 048
  565. SULFASALAZINE [Suspect]
     Active Substance: SULFASALAZINE
     Route: 065
  566. TOCILIZUMAB [Suspect]
     Active Substance: TOCILIZUMAB
     Indication: Rheumatoid arthritis
     Route: 042
  567. TOCILIZUMAB [Suspect]
     Active Substance: TOCILIZUMAB
     Route: 058
  568. TOCILIZUMAB [Suspect]
     Active Substance: TOCILIZUMAB
     Route: 065
  569. ACETAMINOPHEN [Suspect]
     Active Substance: ACETAMINOPHEN
     Indication: Rheumatoid arthritis
     Route: 065
  570. ACETAMINOPHEN [Suspect]
     Active Substance: ACETAMINOPHEN
     Route: 065
  571. ACTIFED (PSEUDOEPHEDRINE HYDROCHLORIDE\TRIPROLIDINE HYDROCHLORIDE) [Suspect]
     Active Substance: PSEUDOEPHEDRINE HYDROCHLORIDE\TRIPROLIDINE HYDROCHLORIDE
     Indication: Product used for unknown indication
     Route: 065
  572. ASACOL [Suspect]
     Active Substance: MESALAMINE
     Indication: Rheumatoid arthritis
     Route: 065
  573. PERCOCET [Suspect]
     Active Substance: ACETAMINOPHEN\OXYCODONE HYDROCHLORIDE
     Indication: Rheumatoid arthritis
     Route: 042
  574. AZULFIDINE [Suspect]
     Active Substance: SULFASALAZINE
     Indication: Product used for unknown indication
     Route: 065
  575. TOFACITINIB CITRATE [Suspect]
     Active Substance: TOFACITINIB CITRATE
     Indication: Rheumatoid arthritis
     Dosage: 10 MG, QD
     Route: 065
  576. TOFACITINIB CITRATE [Suspect]
     Active Substance: TOFACITINIB CITRATE
     Indication: Psoriatic arthropathy
     Route: 065
  577. TOFACITINIB CITRATE [Suspect]
     Active Substance: TOFACITINIB CITRATE
     Route: 065
  578. TOFACITINIB CITRATE [Suspect]
     Active Substance: TOFACITINIB CITRATE
     Dosage: 10 MG, QD
     Route: 065
  579. TOFACITINIB CITRATE [Suspect]
     Active Substance: TOFACITINIB CITRATE
     Route: 065
  580. TOFACITINIB CITRATE [Suspect]
     Active Substance: TOFACITINIB CITRATE
     Dosage: 5 MG, 1 DOSE WEEKLY
     Route: 065
  581. TOFACITINIB CITRATE [Suspect]
     Active Substance: TOFACITINIB CITRATE
     Dosage: 10 MG, 1 DOSE WEEKLY
     Route: 065
  582. TOFACITINIB CITRATE [Suspect]
     Active Substance: TOFACITINIB CITRATE
     Route: 065
  583. TOFACITINIB CITRATE [Suspect]
     Active Substance: TOFACITINIB CITRATE
     Route: 058
  584. TOFACITINIB CITRATE [Suspect]
     Active Substance: TOFACITINIB CITRATE
     Route: 065
  585. CERTOLIZUMAB PEGOL [Suspect]
     Active Substance: CERTOLIZUMAB PEGOL
     Indication: Rheumatoid arthritis
     Route: 058
  586. DICLOFENAC SODIUM [Suspect]
     Active Substance: DICLOFENAC SODIUM
     Indication: Rheumatoid arthritis
     Route: 047
  587. DICLOFENAC SODIUM [Suspect]
     Active Substance: DICLOFENAC SODIUM
     Indication: Osteoarthritis
     Route: 065
  588. DICLOFENAC SODIUM [Suspect]
     Active Substance: DICLOFENAC SODIUM
     Indication: Inflammation
     Route: 065
  589. DICLOFENAC SODIUM [Suspect]
     Active Substance: DICLOFENAC SODIUM
     Route: 058
  590. DICLOFENAC SODIUM [Suspect]
     Active Substance: DICLOFENAC SODIUM
     Route: 048
  591. DICLOFENAC SODIUM [Suspect]
     Active Substance: DICLOFENAC SODIUM
     Dosage: 50 MILLIGRAM, 2 DOSE DAILY
     Route: 065
  592. DICLOFENAC SODIUM [Suspect]
     Active Substance: DICLOFENAC SODIUM
     Route: 058
  593. DICLOFENAC SODIUM [Suspect]
     Active Substance: DICLOFENAC SODIUM
     Route: 047
  594. DICLOFENAC SODIUM [Suspect]
     Active Substance: DICLOFENAC SODIUM
     Dosage: 50 MILLIGRAM, QD
     Route: 058
  595. DICLOFENAC SODIUM [Suspect]
     Active Substance: DICLOFENAC SODIUM
     Route: 065
  596. DICLOFENAC SODIUM [Suspect]
     Active Substance: DICLOFENAC SODIUM
     Route: 065
  597. DICLOFENAC SODIUM [Suspect]
     Active Substance: DICLOFENAC SODIUM
     Route: 065
  598. DICLOFENAC SODIUM [Suspect]
     Active Substance: DICLOFENAC SODIUM
     Route: 031
  599. DICLOFENAC SODIUM [Suspect]
     Active Substance: DICLOFENAC SODIUM
     Route: 058
  600. DICLOFENAC SODIUM [Suspect]
     Active Substance: DICLOFENAC SODIUM
     Route: 058
  601. DICLOFENAC SODIUM [Suspect]
     Active Substance: DICLOFENAC SODIUM
     Route: 058
  602. DICLOFENAC SODIUM [Suspect]
     Active Substance: DICLOFENAC SODIUM
     Dosage: 50 MILLIGRAM, QD
     Route: 058
  603. DICLOFENAC SODIUM [Suspect]
     Active Substance: DICLOFENAC SODIUM
     Route: 065
  604. DICLOFENAC SODIUM [Suspect]
     Active Substance: DICLOFENAC SODIUM
     Route: 065
  605. DICLOFENAC SODIUM [Suspect]
     Active Substance: DICLOFENAC SODIUM
     Route: 065
  606. DICLOFENAC SODIUM [Suspect]
     Active Substance: DICLOFENAC SODIUM
     Route: 065
  607. DICLOFENAC SODIUM [Suspect]
     Active Substance: DICLOFENAC SODIUM
     Route: 065
  608. DICLOFENAC SODIUM [Suspect]
     Active Substance: DICLOFENAC SODIUM
     Route: 065
  609. DICLOFENAC SODIUM [Suspect]
     Active Substance: DICLOFENAC SODIUM
     Route: 065
  610. DICLOFENAC SODIUM [Suspect]
     Active Substance: DICLOFENAC SODIUM
     Route: 047
  611. DICLOFENAC SODIUM [Suspect]
     Active Substance: DICLOFENAC SODIUM
     Route: 065
  612. DICLOFENAC SODIUM [Suspect]
     Active Substance: DICLOFENAC SODIUM
     Route: 065
  613. DICLOFENAC SODIUM [Suspect]
     Active Substance: DICLOFENAC SODIUM
     Route: 065
  614. DICLOFENAC SODIUM [Suspect]
     Active Substance: DICLOFENAC SODIUM
     Route: 065
  615. DICLOFENAC SODIUM [Suspect]
     Active Substance: DICLOFENAC SODIUM
     Route: 065
  616. DICLOFENAC SODIUM [Suspect]
     Active Substance: DICLOFENAC SODIUM
     Route: 065
  617. DICLOFENAC SODIUM [Suspect]
     Active Substance: DICLOFENAC SODIUM
     Route: 065
  618. DICLOFENAC SODIUM [Suspect]
     Active Substance: DICLOFENAC SODIUM
     Route: 065
  619. DICLOFENAC SODIUM [Suspect]
     Active Substance: DICLOFENAC SODIUM
     Route: 065
  620. DICLOFENAC SODIUM [Suspect]
     Active Substance: DICLOFENAC SODIUM
     Route: 065
  621. DICLOFENAC SODIUM [Suspect]
     Active Substance: DICLOFENAC SODIUM
     Route: 048
  622. DICLOFENAC SODIUM [Suspect]
     Active Substance: DICLOFENAC SODIUM
     Route: 048
  623. DICLOFENAC SODIUM [Suspect]
     Active Substance: DICLOFENAC SODIUM
     Route: 048
  624. DICLOFENAC SODIUM [Suspect]
     Active Substance: DICLOFENAC SODIUM
     Route: 048
  625. DICLOFENAC SODIUM [Suspect]
     Active Substance: DICLOFENAC SODIUM
     Route: 047
  626. DICLOFENAC SODIUM [Suspect]
     Active Substance: DICLOFENAC SODIUM
     Route: 058
  627. DICLOFENAC SODIUM [Suspect]
     Active Substance: DICLOFENAC SODIUM
     Route: 058
  628. KEVZARA [Suspect]
     Active Substance: SARILUMAB
     Indication: Rheumatoid arthritis
     Route: 065
  629. DICLOFENAC [Suspect]
     Active Substance: DICLOFENAC
     Indication: Product used for unknown indication
     Route: 065
  630. DICLOFENAC [Suspect]
     Active Substance: DICLOFENAC
     Route: 047
  631. DICLOFENAC [Suspect]
     Active Substance: DICLOFENAC
     Route: 058
  632. DICLOFENAC [Suspect]
     Active Substance: DICLOFENAC
     Route: 058
  633. DICLOFENAC [Suspect]
     Active Substance: DICLOFENAC
     Dosage: 50 MILLIGRAM, QD
     Route: 058
  634. DICLOFENAC [Suspect]
     Active Substance: DICLOFENAC
     Route: 047
  635. DICLOFENAC [Suspect]
     Active Substance: DICLOFENAC
     Route: 058
  636. DICLOFENAC [Suspect]
     Active Substance: DICLOFENAC
     Route: 048
  637. VITAMIN D3 [Suspect]
     Active Substance: CHOLECALCIFEROL
     Indication: Product used for unknown indication
     Route: 065
  638. CLIOQUINOL [Suspect]
     Active Substance: CLIOQUINOL
     Indication: Product used for unknown indication
     Route: 065
  639. DICLOFENAC POTASSIUM [Suspect]
     Active Substance: DICLOFENAC POTASSIUM
     Indication: Rheumatoid arthritis
     Route: 048
  640. DICLOFENAC POTASSIUM [Suspect]
     Active Substance: DICLOFENAC POTASSIUM
     Route: 058
  641. DICLOFENAC POTASSIUM [Suspect]
     Active Substance: DICLOFENAC POTASSIUM
     Route: 047
  642. DICLOFENAC POTASSIUM [Suspect]
     Active Substance: DICLOFENAC POTASSIUM
     Dosage: 50 MILLIGRAM, QD
     Route: 058
  643. DICLOFENAC POTASSIUM [Suspect]
     Active Substance: DICLOFENAC POTASSIUM
     Route: 058
  644. DICLOFENAC POTASSIUM [Suspect]
     Active Substance: DICLOFENAC POTASSIUM
     Route: 065
  645. DICLOFENAC POTASSIUM [Suspect]
     Active Substance: DICLOFENAC POTASSIUM
     Route: 065
  646. ENTYVIO [Suspect]
     Active Substance: VEDOLIZUMAB
     Indication: Product used for unknown indication
     Route: 042
  647. DILTIAZEM HYDROCHLORIDE [Suspect]
     Active Substance: DILTIAZEM HYDROCHLORIDE
     Indication: Rheumatoid arthritis
     Route: 065
  648. DILTIAZEM HYDROCHLORIDE [Suspect]
     Active Substance: DILTIAZEM HYDROCHLORIDE
     Route: 065
  649. DILTIAZEM HYDROCHLORIDE [Suspect]
     Active Substance: DILTIAZEM HYDROCHLORIDE
     Route: 065
  650. DILTIAZEM HYDROCHLORIDE [Suspect]
     Active Substance: DILTIAZEM HYDROCHLORIDE
     Route: 042
  651. ERELZI [Suspect]
     Active Substance: ETANERCEPT-SZZS
     Indication: Rheumatoid arthritis
     Route: 065
  652. ERELZI [Suspect]
     Active Substance: ETANERCEPT-SZZS
     Route: 058
  653. ERELZI [Suspect]
     Active Substance: ETANERCEPT-SZZS
     Dosage: 50 MILLIGRAM, 1 DOSE WEEKLY
     Route: 058
  654. OXYCODONE AND ACETAMINOPHEN [Suspect]
     Active Substance: ACETAMINOPHEN\OXYCODONE HYDROCHLORIDE
     Indication: Product used for unknown indication
     Route: 065
  655. OXYCODONE AND ACETAMINOPHEN [Suspect]
     Active Substance: ACETAMINOPHEN\OXYCODONE HYDROCHLORIDE
     Route: 065
  656. OXYCODONE AND ACETAMINOPHEN [Suspect]
     Active Substance: ACETAMINOPHEN\OXYCODONE HYDROCHLORIDE
     Route: 065
  657. OXYCODONE AND ACETAMINOPHEN [Suspect]
     Active Substance: ACETAMINOPHEN\OXYCODONE HYDROCHLORIDE
     Route: 065
  658. FLUMETHASONE PIVALATE [Suspect]
     Active Substance: FLUMETHASONE PIVALATE
     Indication: Rheumatoid arthritis
     Route: 065
  659. FLUMETHASONE PIVALATE [Suspect]
     Active Substance: FLUMETHASONE PIVALATE
     Route: 058
  660. FLUMETHASONE PIVALATE [Suspect]
     Active Substance: FLUMETHASONE PIVALATE
     Route: 058
  661. PSEUDOEPHEDRINE [Suspect]
     Active Substance: PSEUDOEPHEDRINE
     Indication: Rheumatoid arthritis
     Route: 065
  662. PSEUDOEPHEDRINE [Suspect]
     Active Substance: PSEUDOEPHEDRINE
     Route: 065
  663. PANTOPRAZOLE SODIUM [Suspect]
     Active Substance: PANTOPRAZOLE SODIUM
     Indication: Product used for unknown indication
     Route: 048
  664. PANTOPRAZOLE SODIUM [Suspect]
     Active Substance: PANTOPRAZOLE SODIUM
     Route: 065
  665. PANTOPRAZOLE SODIUM [Suspect]
     Active Substance: PANTOPRAZOLE SODIUM
     Route: 065
  666. PANTOPRAZOLE SODIUM [Suspect]
     Active Substance: PANTOPRAZOLE SODIUM
     Route: 065
  667. PANTOPRAZOLE SODIUM [Suspect]
     Active Substance: PANTOPRAZOLE SODIUM
     Indication: Product used for unknown indication
     Route: 065
  668. NAPROXEN SODIUM [Suspect]
     Active Substance: NAPROXEN SODIUM
     Indication: Rheumatoid arthritis
     Dosage: 500 MG, BID
     Route: 065
  669. NAPROXEN SODIUM [Suspect]
     Active Substance: NAPROXEN SODIUM
     Route: 065
  670. NAPROXEN SODIUM [Suspect]
     Active Substance: NAPROXEN SODIUM
     Dosage: 500 MILLIGRAM, BID
     Route: 065
  671. NAPROXEN SODIUM [Suspect]
     Active Substance: NAPROXEN SODIUM
     Route: 065
  672. NAPROXEN SODIUM [Suspect]
     Active Substance: NAPROXEN SODIUM
     Route: 065
  673. PARA-AMINOSALICYLIC ACID [Suspect]
     Active Substance: AMINOSALICYLIC ACID
     Indication: Product used for unknown indication
     Route: 065
  674. ISOPROPYL ALCOHOL [Suspect]
     Active Substance: ISOPROPYL ALCOHOL
     Indication: Product used for unknown indication
     Route: 061
  675. ISOPROPYL ALCOHOL [Suspect]
     Active Substance: ISOPROPYL ALCOHOL
     Route: 065
  676. ISOPROPYL ALCOHOL [Suspect]
     Active Substance: ISOPROPYL ALCOHOL
     Route: 065
  677. COSENTYX [Suspect]
     Active Substance: SECUKINUMAB
     Indication: Rheumatoid arthritis
     Route: 065
  678. COSENTYX [Suspect]
     Active Substance: SECUKINUMAB
     Indication: Psoriatic arthropathy
     Route: 005
  679. COSENTYX [Suspect]
     Active Substance: SECUKINUMAB
     Route: 005
  680. COSENTYX [Suspect]
     Active Substance: SECUKINUMAB
     Route: 065
  681. COSENTYX [Suspect]
     Active Substance: SECUKINUMAB
     Route: 042
  682. COSENTYX [Suspect]
     Active Substance: SECUKINUMAB
     Route: 042
  683. COSENTYX [Suspect]
     Active Substance: SECUKINUMAB
     Route: 042
  684. HYDROCORTISONE SODIUM SUCCINATE [Suspect]
     Active Substance: HYDROCORTISONE SODIUM SUCCINATE
     Indication: Rheumatoid arthritis
     Route: 048
  685. HYDROCORTISONE SODIUM SUCCINATE [Suspect]
     Active Substance: HYDROCORTISONE SODIUM SUCCINATE
     Route: 048
  686. HYDROCORTISONE SODIUM SUCCINATE [Suspect]
     Active Substance: HYDROCORTISONE SODIUM SUCCINATE
     Route: 048
  687. HYDROCORTISONE SODIUM SUCCINATE [Suspect]
     Active Substance: HYDROCORTISONE SODIUM SUCCINATE
     Route: 065
  688. ACETAMINOPHEN\CODEINE PHOSPHATE [Suspect]
     Active Substance: ACETAMINOPHEN\CODEINE PHOSPHATE
     Indication: Rheumatoid arthritis
     Route: 065
  689. ACETAMINOPHEN\CODEINE PHOSPHATE [Suspect]
     Active Substance: ACETAMINOPHEN\CODEINE PHOSPHATE
     Route: 065
  690. ACETAMINOPHEN\CODEINE PHOSPHATE [Suspect]
     Active Substance: ACETAMINOPHEN\CODEINE PHOSPHATE
     Route: 065
  691. ACETAMINOPHEN\CODEINE PHOSPHATE [Suspect]
     Active Substance: ACETAMINOPHEN\CODEINE PHOSPHATE
     Route: 065
  692. ACETAMINOPHEN\CODEINE PHOSPHATE [Suspect]
     Active Substance: ACETAMINOPHEN\CODEINE PHOSPHATE
     Route: 065
  693. ACETAMINOPHEN [Suspect]
     Active Substance: ACETAMINOPHEN
     Indication: Product used for unknown indication
     Route: 065
  694. OXYCODONE HYDROCHLORIDE [Suspect]
     Active Substance: OXYCODONE HYDROCHLORIDE
     Indication: Product used for unknown indication
     Route: 065
  695. OXYCODONE HYDROCHLORIDE [Suspect]
     Active Substance: OXYCODONE HYDROCHLORIDE
     Route: 065
  696. OXYCODONE HYDROCHLORIDE [Suspect]
     Active Substance: OXYCODONE HYDROCHLORIDE
     Route: 065
  697. OXYCODONE HYDROCHLORIDE [Suspect]
     Active Substance: OXYCODONE HYDROCHLORIDE
     Route: 065
  698. DICLOFENAC POTASSIUM [Suspect]
     Active Substance: DICLOFENAC POTASSIUM
     Indication: Product used for unknown indication
     Route: 050
  699. DICLOFENAC POTASSIUM [Suspect]
     Active Substance: DICLOFENAC POTASSIUM
     Route: 065
  700. VITAMIN C [Suspect]
     Active Substance: ASCORBIC ACID
     Indication: Product used for unknown indication
     Route: 065
  701. VITAMIN C [Suspect]
     Active Substance: ASCORBIC ACID
     Route: 065
  702. VITAMIN C [Suspect]
     Active Substance: ASCORBIC ACID
     Route: 016
  703. VITAMIN C [Suspect]
     Active Substance: ASCORBIC ACID
     Route: 016
  704. CETIRIZINE HYDROCHLORIDE [Suspect]
     Active Substance: CETIRIZINE HYDROCHLORIDE
     Indication: Urticaria
     Route: 065
  705. CETIRIZINE HYDROCHLORIDE [Suspect]
     Active Substance: CETIRIZINE HYDROCHLORIDE
     Indication: Rheumatoid arthritis
     Route: 065
  706. CETIRIZINE HYDROCHLORIDE [Suspect]
     Active Substance: CETIRIZINE HYDROCHLORIDE
     Route: 048
  707. CETIRIZINE HYDROCHLORIDE [Suspect]
     Active Substance: CETIRIZINE HYDROCHLORIDE
     Route: 005
  708. CETIRIZINE HYDROCHLORIDE [Suspect]
     Active Substance: CETIRIZINE HYDROCHLORIDE
     Route: 065
  709. CETIRIZINE HYDROCHLORIDE [Suspect]
     Active Substance: CETIRIZINE HYDROCHLORIDE
     Route: 016
  710. CETIRIZINE HYDROCHLORIDE [Suspect]
     Active Substance: CETIRIZINE HYDROCHLORIDE
     Route: 042
  711. CETIRIZINE HYDROCHLORIDE [Suspect]
     Active Substance: CETIRIZINE HYDROCHLORIDE
     Dosage: 10 MILLIGRAM, QD
     Route: 048
  712. LEFLUNOMIDE [Suspect]
     Active Substance: LEFLUNOMIDE
     Indication: Rheumatoid arthritis
     Route: 065
  713. LEFLUNOMIDE [Suspect]
     Active Substance: LEFLUNOMIDE
     Route: 048
  714. LEFLUNOMIDE [Suspect]
     Active Substance: LEFLUNOMIDE
     Route: 048
  715. LEFLUNOMIDE [Suspect]
     Active Substance: LEFLUNOMIDE
     Route: 048
  716. ADVIL [Suspect]
     Active Substance: IBUPROFEN
     Indication: Product used for unknown indication
     Route: 065
  717. LYRICA [Suspect]
     Active Substance: PREGABALIN
     Indication: Product used for unknown indication
     Route: 065
  718. ACETAMINOPHEN\BUTALBITAL [Suspect]
     Active Substance: ACETAMINOPHEN\BUTALBITAL
     Indication: Product used for unknown indication
     Route: 048
  719. ACETAMINOPHEN\BUTALBITAL [Suspect]
     Active Substance: ACETAMINOPHEN\BUTALBITAL
     Route: 065
  720. XELJANZ [Suspect]
     Active Substance: TOFACITINIB CITRATE
     Indication: Rheumatoid arthritis
     Dosage: 5 MG, 2 DOSE DAILY
     Route: 065
  721. XELJANZ [Suspect]
     Active Substance: TOFACITINIB CITRATE
     Indication: Psoriatic arthropathy
     Route: 065
  722. XELJANZ [Suspect]
     Active Substance: TOFACITINIB CITRATE
     Route: 065
  723. XELJANZ [Suspect]
     Active Substance: TOFACITINIB CITRATE
     Dosage: 5 MG, 2 DOSE DAILY
     Route: 065
  724. XELJANZ [Suspect]
     Active Substance: TOFACITINIB CITRATE
     Dosage: 10 MG, QD
     Route: 048
  725. XELJANZ [Suspect]
     Active Substance: TOFACITINIB CITRATE
     Dosage: 5 MG, 2 DOSE DAILY
     Route: 065
  726. XELJANZ [Suspect]
     Active Substance: TOFACITINIB CITRATE
     Dosage: 5 MG, 2 DOSE DAILY
     Route: 065
  727. XELJANZ [Suspect]
     Active Substance: TOFACITINIB CITRATE
     Dosage: 5 MG, 2 DOSE DAILY
     Route: 065
  728. XELJANZ [Suspect]
     Active Substance: TOFACITINIB CITRATE
     Route: 065
  729. XELJANZ [Suspect]
     Active Substance: TOFACITINIB CITRATE
     Route: 065
  730. XELJANZ [Suspect]
     Active Substance: TOFACITINIB CITRATE
     Route: 048
  731. XELJANZ [Suspect]
     Active Substance: TOFACITINIB CITRATE
     Route: 048
  732. XELJANZ [Suspect]
     Active Substance: TOFACITINIB CITRATE
     Route: 065
  733. XELJANZ [Suspect]
     Active Substance: TOFACITINIB CITRATE
     Route: 065
  734. XELJANZ [Suspect]
     Active Substance: TOFACITINIB CITRATE
     Route: 065
  735. XELJANZ [Suspect]
     Active Substance: TOFACITINIB CITRATE
     Route: 065
  736. XELJANZ [Suspect]
     Active Substance: TOFACITINIB CITRATE
     Route: 016
  737. XELJANZ [Suspect]
     Active Substance: TOFACITINIB CITRATE
     Route: 042
  738. MOXIFLOXACIN [Suspect]
     Active Substance: MOXIFLOXACIN
     Indication: Product used for unknown indication
     Route: 058
  739. CALCIUM GLUCONATE [Suspect]
     Active Substance: CALCIUM GLUCONATE
     Indication: Product used for unknown indication
     Route: 065
  740. CALCIUM GLUCONATE [Suspect]
     Active Substance: CALCIUM GLUCONATE
     Route: 065
  741. SULFASALAZINE [Suspect]
     Active Substance: SULFASALAZINE
     Indication: Rheumatoid arthritis
     Dosage: UNK, QD
     Route: 048
  742. SULFASALAZINE [Suspect]
     Active Substance: SULFASALAZINE
     Route: 048
  743. SULFASALAZINE [Suspect]
     Active Substance: SULFASALAZINE
     Dosage: 1000 MILLIGRAM, BID
     Route: 048
  744. SULFASALAZINE [Suspect]
     Active Substance: SULFASALAZINE
     Route: 048
  745. SULFASALAZINE [Suspect]
     Active Substance: SULFASALAZINE
     Dosage: 1000 MILLIGRAM, 2 DOSE DAILY
     Route: 048
  746. SULFASALAZINE [Suspect]
     Active Substance: SULFASALAZINE
     Dosage: 1 GRAM, BID
     Route: 048
  747. SULFASALAZINE [Suspect]
     Active Substance: SULFASALAZINE
     Dosage: 1 GRAM, QD
     Route: 048
  748. SULFASALAZINE [Suspect]
     Active Substance: SULFASALAZINE
     Route: 065
  749. SULFASALAZINE [Suspect]
     Active Substance: SULFASALAZINE
     Route: 065
  750. SULFASALAZINE [Suspect]
     Active Substance: SULFASALAZINE
     Dosage: 10 MILLIGRAM, 2 DOSE DAILY
     Route: 065
  751. SULFASALAZINE [Suspect]
     Active Substance: SULFASALAZINE
     Dosage: UNK, QD
     Route: 048
  752. SULFASALAZINE [Suspect]
     Active Substance: SULFASALAZINE
     Route: 058
  753. CETIRIZINE HYDROCHLORIDE [Concomitant]
     Active Substance: CETIRIZINE HYDROCHLORIDE
     Indication: Product used for unknown indication
     Route: 065
  754. CETIRIZINE HYDROCHLORIDE [Concomitant]
     Active Substance: CETIRIZINE HYDROCHLORIDE
     Route: 065
  755. CETIRIZINE HYDROCHLORIDE [Concomitant]
     Active Substance: CETIRIZINE HYDROCHLORIDE
     Dosage: 10 MG, QD
     Route: 065
  756. CETIRIZINE HYDROCHLORIDE [Concomitant]
     Active Substance: CETIRIZINE HYDROCHLORIDE
     Route: 065
  757. CETIRIZINE HYDROCHLORIDE [Concomitant]
     Active Substance: CETIRIZINE HYDROCHLORIDE
     Route: 065
  758. CETIRIZINE HYDROCHLORIDE [Concomitant]
     Active Substance: CETIRIZINE HYDROCHLORIDE
     Route: 065
  759. CETIRIZINE HYDROCHLORIDE [Concomitant]
     Active Substance: CETIRIZINE HYDROCHLORIDE
     Route: 065
  760. DESOGESTREL AND ETHINYL ESTRADIOL [Concomitant]
     Active Substance: DESOGESTREL\ETHINYL ESTRADIOL
     Indication: Product used for unknown indication
     Route: 065
  761. DESOGESTREL AND ETHINYL ESTRADIOL [Concomitant]
     Active Substance: DESOGESTREL\ETHINYL ESTRADIOL
     Route: 065
  762. DESOGESTREL AND ETHINYL ESTRADIOL [Concomitant]
     Active Substance: DESOGESTREL\ETHINYL ESTRADIOL
     Route: 065
  763. ZOPICLONE [Concomitant]
     Active Substance: ZOPICLONE
     Indication: Product used for unknown indication
     Route: 065
  764. ERGOCALCIFEROL [Concomitant]
     Active Substance: ERGOCALCIFEROL
     Indication: Product used for unknown indication
     Route: 065
  765. GLUCOSAMINE [Concomitant]
     Active Substance: GLUCOSAMINE
     Indication: Product used for unknown indication
     Route: 065
  766. LANSOPRAZOLE [Concomitant]
     Active Substance: LANSOPRAZOLE
     Indication: Product used for unknown indication
     Route: 065
  767. LORAZEPAM [Concomitant]
     Active Substance: LORAZEPAM
     Indication: Product used for unknown indication
     Route: 065
  768. PANTOPRAZOLE [Concomitant]
     Active Substance: PANTOPRAZOLE
     Indication: Product used for unknown indication
     Route: 065
  769. PANTOPRAZOLE SODIUM [Concomitant]
     Active Substance: PANTOPRAZOLE SODIUM
     Indication: Product used for unknown indication
     Route: 065
  770. PANTOPRAZOLE SODIUM [Concomitant]
     Active Substance: PANTOPRAZOLE SODIUM
     Route: 048
  771. PANTOPRAZOLE SODIUM [Concomitant]
     Active Substance: PANTOPRAZOLE SODIUM
     Route: 065
  772. FISH OIL [Concomitant]
     Active Substance: FISH OIL
     Indication: Product used for unknown indication
     Route: 065
  773. TYLENOL [Concomitant]
     Active Substance: ACETAMINOPHEN
     Indication: Product used for unknown indication
     Route: 065
  774. DIPHENHYDRAMINE HYDROCHLORIDE [Concomitant]
     Active Substance: DIPHENHYDRAMINE HYDROCHLORIDE
     Indication: Rheumatoid arthritis
     Route: 065
  775. QUETIAPINE FUMARATE [Concomitant]
     Active Substance: QUETIAPINE FUMARATE
     Indication: Product used for unknown indication
     Route: 065
  776. SULFASALAZINE [Concomitant]
     Active Substance: SULFASALAZINE
     Indication: Product used for unknown indication
     Route: 065
  777. TYLENOL WITH CODEINE [Concomitant]
     Active Substance: ACETAMINOPHEN\CODEINE PHOSPHATE
     Indication: Product used for unknown indication
     Route: 065
  778. PANTOPRAZOLE SODIUM [Concomitant]
     Active Substance: PANTOPRAZOLE SODIUM
     Indication: Product used for unknown indication
     Route: 065
  779. ACETAMINOPHEN AND CODEINE [Concomitant]
     Active Substance: ACETAMINOPHEN\CODEINE PHOSPHATE
     Indication: Product used for unknown indication
     Route: 065
  780. ACETAMINOPHEN\CAFFEINE CITRATE [Concomitant]
     Active Substance: ACETAMINOPHEN\CAFFEINE CITRATE
     Indication: Product used for unknown indication
     Route: 065
  781. ACETAMINOPHEN [Concomitant]
     Active Substance: ACETAMINOPHEN
     Indication: Product used for unknown indication
     Route: 065
  782. MARVELON [Concomitant]
     Active Substance: DESOGESTREL\ETHINYL ESTRADIOL
     Indication: Product used for unknown indication
     Route: 065
  783. CETIRIZINE [Concomitant]
     Active Substance: CETIRIZINE HYDROCHLORIDE
     Indication: Rheumatoid arthritis
     Route: 065
  784. CETIRIZINE [Concomitant]
     Active Substance: CETIRIZINE HYDROCHLORIDE
     Route: 065
  785. CETIRIZINE [Concomitant]
     Active Substance: CETIRIZINE HYDROCHLORIDE
     Route: 065
  786. CETIRIZINE [Concomitant]
     Active Substance: CETIRIZINE HYDROCHLORIDE
     Route: 065
  787. CETIRIZINE [Concomitant]
     Active Substance: CETIRIZINE HYDROCHLORIDE
     Route: 065
  788. CETIRIZINE [Concomitant]
     Active Substance: CETIRIZINE HYDROCHLORIDE
     Route: 061
  789. CETIRIZINE [Concomitant]
     Active Substance: CETIRIZINE HYDROCHLORIDE
     Route: 065
  790. CETIRIZINE [Concomitant]
     Active Substance: CETIRIZINE HYDROCHLORIDE
     Route: 065
  791. CETIRIZINE [Concomitant]
     Active Substance: CETIRIZINE HYDROCHLORIDE
     Dosage: 10 MG, QD
     Route: 065
  792. CETIRIZINE [Concomitant]
     Active Substance: CETIRIZINE HYDROCHLORIDE
     Route: 065
  793. CETIRIZINE [Concomitant]
     Active Substance: CETIRIZINE HYDROCHLORIDE
     Route: 065
  794. CETIRIZINE [Concomitant]
     Active Substance: CETIRIZINE HYDROCHLORIDE
     Route: 016
  795. CHOLECALCIFEROL [Concomitant]
     Active Substance: CHOLECALCIFEROL
     Indication: Product used for unknown indication
     Route: 065
  796. IBUPROFEN [Concomitant]
     Active Substance: IBUPROFEN
     Indication: Product used for unknown indication
     Route: 065
  797. IBUPROFEN [Concomitant]
     Active Substance: IBUPROFEN
     Route: 065

REACTIONS (183)
  - Contraindicated product administered [Fatal]
  - Underdose [Fatal]
  - Therapeutic product effect incomplete [Fatal]
  - Drug ineffective [Fatal]
  - Drug intolerance [Fatal]
  - Drug tolerance decreased [Fatal]
  - Exposure during pregnancy [Fatal]
  - Intentional product use issue [Fatal]
  - Prescribed underdose [Fatal]
  - Medication error [Fatal]
  - Maternal exposure during pregnancy [Fatal]
  - Maternal exposure timing unspecified [Fatal]
  - Off label use [Fatal]
  - Prescribed overdose [Fatal]
  - Product use issue [Fatal]
  - Product use in unapproved indication [Fatal]
  - Pregnancy [Fatal]
  - Road traffic accident [Fatal]
  - Therapeutic product effect decreased [Fatal]
  - Therapy non-responder [Fatal]
  - Treatment failure [Fatal]
  - Abdominal discomfort [Fatal]
  - Abdominal pain upper [Fatal]
  - Alopecia [Fatal]
  - Anti-cyclic citrullinated peptide antibody positive [Fatal]
  - Arthralgia [Fatal]
  - Arthropathy [Fatal]
  - Discomfort [Fatal]
  - Dry mouth [Fatal]
  - Dyspnoea [Fatal]
  - Facet joint syndrome [Fatal]
  - Fibromyalgia [Fatal]
  - Folliculitis [Fatal]
  - General physical health deterioration [Fatal]
  - Glossodynia [Fatal]
  - Hand deformity [Fatal]
  - Hypoaesthesia [Fatal]
  - Ill-defined disorder [Fatal]
  - Impaired healing [Fatal]
  - Infection [Fatal]
  - Infusion related reaction [Fatal]
  - Injury [Fatal]
  - Insomnia [Fatal]
  - Irritable bowel syndrome [Fatal]
  - Joint range of motion decreased [Fatal]
  - Joint swelling [Fatal]
  - Lip dry [Fatal]
  - Live birth [Fatal]
  - Liver disorder [Fatal]
  - Malaise [Fatal]
  - Mobility decreased [Fatal]
  - Peripheral swelling [Fatal]
  - Psoriatic arthropathy [Fatal]
  - Rheumatic fever [Fatal]
  - Sciatica [Fatal]
  - Swollen joint count increased [Fatal]
  - Type 2 diabetes mellitus [Fatal]
  - Urticaria [Fatal]
  - Asthenia [Fatal]
  - C-reactive protein abnormal [Fatal]
  - Muscle spasms [Fatal]
  - Blood cholesterol increased [Fatal]
  - Chest pain [Fatal]
  - Condition aggravated [Fatal]
  - Duodenal ulcer perforation [Fatal]
  - Contusion [Fatal]
  - Fatigue [Fatal]
  - Gastrointestinal disorder [Fatal]
  - Hypertension [Fatal]
  - Helicobacter infection [Fatal]
  - Inflammation [Fatal]
  - Lower respiratory tract infection [Fatal]
  - Nasopharyngitis [Fatal]
  - Lung disorder [Fatal]
  - Muscle injury [Fatal]
  - Musculoskeletal stiffness [Fatal]
  - Night sweats [Fatal]
  - Obesity [Fatal]
  - Wound [Fatal]
  - Peripheral venous disease [Fatal]
  - Osteoarthritis [Fatal]
  - Pain in extremity [Fatal]
  - Paraesthesia [Fatal]
  - Pemphigus [Fatal]
  - Pericarditis [Fatal]
  - Rheumatoid arthritis [Fatal]
  - Rheumatoid factor positive [Fatal]
  - Sinusitis [Fatal]
  - Sleep disorder [Fatal]
  - Synovitis [Fatal]
  - Weight increased [Fatal]
  - Oedema peripheral [Fatal]
  - Sleep disorder due to general medical condition, insomnia type [Fatal]
  - Bursitis [Fatal]
  - Adjustment disorder with depressed mood [Fatal]
  - Adverse drug reaction [Fatal]
  - Adverse event [Fatal]
  - Amnesia [Fatal]
  - Breast cancer stage III [Fatal]
  - Colitis ulcerative [Fatal]
  - Delirium [Fatal]
  - Depression [Fatal]
  - Dislocation of vertebra [Fatal]
  - Feeling hot [Fatal]
  - Frequent bowel movements [Fatal]
  - X-ray abnormal [Fatal]
  - Porphyria acute [Fatal]
  - Rectal haemorrhage [Fatal]
  - Wheezing [Fatal]
  - Weight decreased [Fatal]
  - Wound infection [Fatal]
  - Rash [Fatal]
  - Pain [Fatal]
  - Blister [Fatal]
  - Confusional state [Fatal]
  - Headache [Fatal]
  - Hepatic enzyme increased [Fatal]
  - Drug hypersensitivity [Fatal]
  - Oedema [Fatal]
  - Pruritus [Fatal]
  - Pyrexia [Fatal]
  - Stomatitis [Fatal]
  - Swelling [Fatal]
  - Systemic lupus erythematosus [Fatal]
  - Musculoskeletal pain [Fatal]
  - Decreased appetite [Fatal]
  - Diarrhoea [Fatal]
  - Dizziness [Fatal]
  - Hypersensitivity [Fatal]
  - Respiratory disorder [Fatal]
  - Back pain [Fatal]
  - Vomiting [Fatal]
  - Dyspepsia [Fatal]
  - Gait disturbance [Fatal]
  - Loss of personal independence in daily activities [Fatal]
  - Migraine [Fatal]
  - Pneumonia [Fatal]
  - Pulmonary fibrosis [Fatal]
  - Nausea [Fatal]
  - White blood cell count increased [Fatal]
  - Anxiety [Fatal]
  - Asthma [Fatal]
  - Autoimmune disorder [Fatal]
  - C-reactive protein [Fatal]
  - Deep vein thrombosis postoperative [Fatal]
  - Gait inability [Fatal]
  - Hip arthroplasty [Fatal]
  - Liver injury [Fatal]
  - Lower limb fracture [Fatal]
  - Arthritis [Fatal]
  - Bone erosion [Fatal]
  - C-reactive protein increased [Fatal]
  - Crohn^s disease [Fatal]
  - Ear infection [Fatal]
  - Exostosis [Fatal]
  - Foot deformity [Fatal]
  - Grip strength [Fatal]
  - Grip strength decreased [Fatal]
  - Hepatic cirrhosis [Fatal]
  - Hypercholesterolaemia [Fatal]
  - Joint dislocation [Fatal]
  - Joint stiffness [Fatal]
  - Laboratory test abnormal [Fatal]
  - Laryngitis [Fatal]
  - Lupus vulgaris [Fatal]
  - Lupus-like syndrome [Fatal]
  - Memory impairment [Fatal]
  - Muscle spasms [Fatal]
  - Muscular weakness [Fatal]
  - Osteoporosis [Fatal]
  - Red blood cell sedimentation rate increased [Fatal]
  - Pancreatitis [Fatal]
  - Retinitis [Fatal]
  - Sleep disorder due to a general medical condition [Fatal]
  - Knee arthroplasty [Fatal]
  - Weight fluctuation [Fatal]
  - Muscle spasticity [Fatal]
  - Swollen joint count [Fatal]
  - Tachycardia [Fatal]
  - Thrombocytopenia [Fatal]
  - Visual impairment [Fatal]
  - Abdominal pain [Fatal]
  - Drug-induced liver injury [Fatal]
